FAERS Safety Report 21642852 (Version 6)
Quarter: 2024Q1

REPORT INFORMATION
  Report Type: Report from Study
  Country: GB (occurrence: GB)
  Receive Date: 20221125
  Receipt Date: 20240208
  Transmission Date: 20240410
  Serious: Yes (Hospitalization, Other)
  Sender: FDA-Public Use
  Company Number: GB-TEVA-2022-GB-2829169

PATIENT
  Age: 65 Year
  Sex: Female
  Weight: 80 kg

DRUGS (610)
  1. BENDAMUSTINE [Suspect]
     Active Substance: BENDAMUSTINE
     Indication: Follicular lymphoma
     Dosage: CUMULATIVE DOSE- 22672.5 MILLIGRAMS
     Route: 065
  2. BENDAMUSTINE [Suspect]
     Active Substance: BENDAMUSTINE
     Indication: Follicular lymphoma
     Route: 042
     Dates: start: 20210504, end: 20210505
  3. BENDAMUSTINE [Suspect]
     Active Substance: BENDAMUSTINE
     Indication: Follicular lymphoma
     Dosage: UNK (CUMULATIVE DOSE- 22672.5 MILLIGRAMS)
     Route: 065
  4. BENDAMUSTINE [Suspect]
     Active Substance: BENDAMUSTINE
     Indication: Follicular lymphoma
     Route: 042
     Dates: start: 20210505, end: 20210505
  5. BENDAMUSTINE [Suspect]
     Active Substance: BENDAMUSTINE
     Indication: Follicular lymphoma
     Dosage: 180 MG
     Route: 065
     Dates: start: 20210706
  6. BENDAMUSTINE [Suspect]
     Active Substance: BENDAMUSTINE
     Indication: Follicular lymphoma
     Route: 042
     Dates: start: 20210607, end: 20210607
  7. BENDAMUSTINE [Suspect]
     Active Substance: BENDAMUSTINE
     Indication: Follicular lymphoma
     Dosage: 180 MILLIGRAM, QD (CUMULATIVE DOSE TO FIRST REACTION: 69840.0 MG)
     Route: 065
     Dates: start: 20210308
  8. BENDAMUSTINE [Suspect]
     Active Substance: BENDAMUSTINE
     Indication: Follicular lymphoma
     Route: 042
     Dates: start: 20210607, end: 20210608
  9. BENDAMUSTINE [Suspect]
     Active Substance: BENDAMUSTINE
     Indication: Follicular lymphoma
     Dosage: 180 MG EVERY DAY (PHARMACEUTICAL DOSE FORM: 15)
     Route: 065
     Dates: start: 20210308
  10. BENDAMUSTINE [Suspect]
     Active Substance: BENDAMUSTINE
     Indication: Follicular lymphoma
     Route: 042
     Dates: start: 20210608, end: 20210608
  11. BENDAMUSTINE [Suspect]
     Active Substance: BENDAMUSTINE
     Indication: Follicular lymphoma
     Dosage: UNK (CUMULATIVE DOSE- 22672.5 MILLIGRAMS)
     Route: 065
     Dates: start: 20210308
  12. BENDAMUSTINE [Suspect]
     Active Substance: BENDAMUSTINE
     Indication: Follicular lymphoma
     Route: 042
     Dates: start: 20210705, end: 20210705
  13. BENDAMUSTINE [Suspect]
     Active Substance: BENDAMUSTINE
     Indication: Follicular lymphoma
     Dosage: 180 MG, QD
     Route: 065
     Dates: start: 20210308
  14. BENDAMUSTINE [Suspect]
     Active Substance: BENDAMUSTINE
     Indication: Follicular lymphoma
     Route: 042
     Dates: start: 20210705, end: 20210706
  15. BENDAMUSTINE [Suspect]
     Active Substance: BENDAMUSTINE
     Indication: Follicular lymphoma
     Dosage: 180 MG
     Route: 065
     Dates: start: 20210706
  16. BENDAMUSTINE [Suspect]
     Active Substance: BENDAMUSTINE
     Indication: Follicular lymphoma
     Route: 042
     Dates: start: 20210706, end: 20210706
  17. BENDAMUSTINE [Suspect]
     Active Substance: BENDAMUSTINE
     Indication: Follicular lymphoma
     Dosage: 180 MG
     Route: 042
     Dates: start: 20210706
  18. BENDAMUSTINE [Suspect]
     Active Substance: BENDAMUSTINE
     Indication: Follicular lymphoma
     Dosage: 180 MG EVERY DAY (PHARMACEUTICAL DOSE FORM: 15)
     Route: 065
     Dates: start: 20210308
  19. BENDAMUSTINE [Suspect]
     Active Substance: BENDAMUSTINE
     Indication: Follicular lymphoma
     Dosage: TIME INTERVAL: CYCLICAL
     Route: 042
  20. BENDAMUSTINE [Suspect]
     Active Substance: BENDAMUSTINE
     Indication: Follicular lymphoma
     Dosage: DOSAGE TEXT: CYCLIC
     Route: 042
     Dates: start: 20210308
  21. BENDAMUSTINE [Suspect]
     Active Substance: BENDAMUSTINE
     Indication: Follicular lymphoma
     Dosage: 180 MG, QD
     Route: 065
     Dates: start: 20210308
  22. BENDAMUSTINE [Suspect]
     Active Substance: BENDAMUSTINE
     Indication: Follicular lymphoma
     Route: 042
     Dates: start: 20210308, end: 20210308
  23. BENDAMUSTINE [Suspect]
     Active Substance: BENDAMUSTINE
     Indication: Follicular lymphoma
     Dosage: UNK
     Route: 065
  24. BENDAMUSTINE [Suspect]
     Active Substance: BENDAMUSTINE
     Indication: Follicular lymphoma
     Dosage: DOSAGE TEXT: (D1,2 OF EVERY 28-DAY CYCLE)
     Route: 042
     Dates: start: 20210308, end: 20210309
  25. BENDAMUSTINE [Suspect]
     Active Substance: BENDAMUSTINE
     Indication: Follicular lymphoma
     Dosage: 180 MG
     Route: 065
     Dates: start: 20210706
  26. BENDAMUSTINE [Suspect]
     Active Substance: BENDAMUSTINE
     Indication: Follicular lymphoma
     Route: 042
     Dates: start: 20210309, end: 20210309
  27. BENDAMUSTINE [Suspect]
     Active Substance: BENDAMUSTINE
     Indication: Follicular lymphoma
     Dosage: 180 MG, QD (CUMULATIVE DOSE TO FIRST REACTION: 69840.0 MG)
     Route: 065
     Dates: start: 20210308
  28. BENDAMUSTINE [Suspect]
     Active Substance: BENDAMUSTINE
     Indication: Follicular lymphoma
     Route: 042
     Dates: start: 20210406, end: 20210406
  29. BENDAMUSTINE [Suspect]
     Active Substance: BENDAMUSTINE
     Indication: Follicular lymphoma
     Dosage: 180 MG, QD (CUMULATIVE DOSE: 91432.5 MG)
     Route: 065
     Dates: start: 20210706
  30. BENDAMUSTINE [Suspect]
     Active Substance: BENDAMUSTINE
     Indication: Follicular lymphoma
     Route: 042
     Dates: start: 20210406, end: 20210407
  31. BENDAMUSTINE [Suspect]
     Active Substance: BENDAMUSTINE
     Indication: Follicular lymphoma
     Dosage: 180 MG EVERY DAY (PHARMACEUTICAL DOSE FORM: 15)
     Route: 065
     Dates: start: 20210308
  32. BENDAMUSTINE [Suspect]
     Active Substance: BENDAMUSTINE
     Indication: Follicular lymphoma
     Route: 042
     Dates: start: 20210407, end: 20210407
  33. BENDAMUSTINE [Suspect]
     Active Substance: BENDAMUSTINE
     Indication: Follicular lymphoma
     Dosage: 180 MILLIGRAM, QD (CUMULATIVE DOSE TO FIRST REACTION: 69840.0 MG)
     Route: 065
     Dates: start: 20210308
  34. BENDAMUSTINE [Suspect]
     Active Substance: BENDAMUSTINE
     Indication: Follicular lymphoma
     Route: 042
     Dates: start: 20210504, end: 20210504
  35. BENDAMUSTINE [Suspect]
     Active Substance: BENDAMUSTINE
     Indication: Follicular lymphoma
     Dosage: 180 MILLIGRAM, QD (180 MG EVERY DAY (PHARMACEUTICAL DOSE FORM: 15)
     Route: 065
     Dates: start: 20210308
  36. BENDAMUSTINE [Suspect]
     Active Substance: BENDAMUSTINE
     Indication: Follicular lymphoma
     Dosage: 180 MG, QD
     Route: 065
     Dates: start: 20210706
  37. BENDAMUSTINE [Suspect]
     Active Substance: BENDAMUSTINE
     Indication: Follicular lymphoma
     Dosage: UNK
     Route: 065
  38. BENDAMUSTINE HYDROCHLORIDE [Suspect]
     Active Substance: BENDAMUSTINE HYDROCHLORIDE
     Indication: Follicular lymphoma stage IV
     Dosage: UNK
     Route: 065
  39. BENDAMUSTINE HYDROCHLORIDE [Suspect]
     Active Substance: BENDAMUSTINE HYDROCHLORIDE
     Indication: Follicular lymphoma stage IV
     Dosage: 180 MILLIGRAM (CUMULATIVE DOSE: 69840 MG)
     Route: 065
     Dates: start: 20210706
  40. BENDAMUSTINE HYDROCHLORIDE [Suspect]
     Active Substance: BENDAMUSTINE HYDROCHLORIDE
     Indication: Follicular lymphoma stage IV
     Dosage: 180 MILLIGRAM,QD(180MG EVERY DAYDOSE FORM:15) (CUMULATIVE DOSE TO FIRST REACTION: 69840.0 MG)
     Route: 065
     Dates: start: 20210308
  41. BENDAMUSTINE HYDROCHLORIDE [Suspect]
     Active Substance: BENDAMUSTINE HYDROCHLORIDE
     Indication: Follicular lymphoma stage IV
     Dosage: UNK (CUMULATIVE DOSE: 69840 MG)
     Route: 065
  42. BENDAMUSTINE HYDROCHLORIDE [Suspect]
     Active Substance: BENDAMUSTINE HYDROCHLORIDE
     Indication: Follicular lymphoma stage IV
     Dosage: UNK (CUMULATIVE DOSE: 69840 MG)
     Route: 065
  43. BENDAMUSTINE HYDROCHLORIDE [Suspect]
     Active Substance: BENDAMUSTINE HYDROCHLORIDE
     Indication: Follicular lymphoma stage IV
     Dosage: 90 MG/M2, EVERY DAY (SUBSEQUENT DOSE (90 MG/M2) BENDAMUSTINE ON 06/APR/2021 TO 07/APR/2021, 04/MAY/2
     Route: 065
     Dates: start: 20210308
  44. BENDAMUSTINE HYDROCHLORIDE [Suspect]
     Active Substance: BENDAMUSTINE HYDROCHLORIDE
     Indication: Follicular lymphoma stage IV
     Dosage: 180 MILLIGRAM, QD (CUMULATIVE DOSE TO FIRST REACTION: 22672.5 MG; 180 MG EVERY DAY (PHARMACEUTICAL D
     Route: 065
     Dates: start: 20210308
  45. BENDAMUSTINE HYDROCHLORIDE [Suspect]
     Active Substance: BENDAMUSTINE HYDROCHLORIDE
     Indication: Follicular lymphoma stage IV
     Dosage: UNK
     Route: 065
  46. BENDAMUSTINE HYDROCHLORIDE [Suspect]
     Active Substance: BENDAMUSTINE HYDROCHLORIDE
     Indication: Follicular lymphoma stage IV
     Dosage: 180 MILLIGRAM
     Route: 065
  47. BENDAMUSTINE HYDROCHLORIDE [Suspect]
     Active Substance: BENDAMUSTINE HYDROCHLORIDE
     Indication: Follicular lymphoma stage IV
     Dosage: 180 MILLIGRAM, QD (180 MG EVERY DAY (PHARMACEUTICAL DOSE FORM: 15)
     Route: 065
     Dates: start: 20210308
  48. BENDAMUSTINE HYDROCHLORIDE [Suspect]
     Active Substance: BENDAMUSTINE HYDROCHLORIDE
     Indication: Follicular lymphoma stage IV
     Dosage: 180 MILLIGRAM,QD(180MG EVERY DAYDOSE FORM:15)(CUMULATIVE DOSE TO FIRST REACTION: 69840.0 MG)
     Route: 065
     Dates: start: 20210308
  49. BENDAMUSTINE HYDROCHLORIDE [Suspect]
     Active Substance: BENDAMUSTINE HYDROCHLORIDE
     Indication: Follicular lymphoma stage IV
     Dosage: 180 MILLIGRAM
     Route: 065
     Dates: start: 20210706
  50. ACYCLOVIR [Concomitant]
     Active Substance: ACYCLOVIR
     Indication: Product used for unknown indication
     Route: 065
  51. ACYCLOVIR [Concomitant]
     Active Substance: ACYCLOVIR
     Indication: Product used for unknown indication
     Dosage: DOSAGE TEXT: (0.33/DAY)
     Route: 065
     Dates: start: 20200402, end: 20200404
  52. BUTYLSCOPOLAMINE BROMIDE [Concomitant]
     Active Substance: BUTYLSCOPOLAMINE BROMIDE
     Indication: Pain
     Dosage: .5 ABSENT 0.5 ABSENT
     Route: 065
     Dates: start: 20200214, end: 20200222
  53. BUTYLSCOPOLAMINE BROMIDE [Concomitant]
     Active Substance: BUTYLSCOPOLAMINE BROMIDE
     Indication: Pain
     Dosage: DOSAGE TEXT: UNK UNK, TWICE DAILY
     Route: 065
     Dates: start: 20200214, end: 20200222
  54. BUTYLSCOPOLAMINE BROMIDE [Concomitant]
     Active Substance: BUTYLSCOPOLAMINE BROMIDE
     Indication: Pain
     Dosage: UNK
     Dates: start: 20200215, end: 20200222
  55. BUTYLSCOPOLAMINE BROMIDE [Concomitant]
     Active Substance: BUTYLSCOPOLAMINE BROMIDE
     Indication: Pain
     Route: 065
  56. BUTYLSCOPOLAMINE BROMIDE [Concomitant]
     Active Substance: BUTYLSCOPOLAMINE BROMIDE
     Indication: Pain
     Dosage: UNK, BID
     Route: 065
     Dates: start: 20200214, end: 20200222
  57. BUTYLSCOPOLAMINE BROMIDE [Concomitant]
     Active Substance: BUTYLSCOPOLAMINE BROMIDE
     Indication: Pain
     Dosage: UNK
  58. BUTYLSCOPOLAMINE BROMIDE [Concomitant]
     Active Substance: BUTYLSCOPOLAMINE BROMIDE
     Indication: Pain
     Dosage: UNK
     Dates: start: 20200214, end: 20200222
  59. CALCIUM [Concomitant]
     Active Substance: CALCIUM
     Indication: Product used for unknown indication
     Dosage: UNK
  60. CALCIUM [Concomitant]
     Active Substance: CALCIUM
     Indication: Product used for unknown indication
     Route: 065
     Dates: start: 20210504
  61. CALCIUM [Concomitant]
     Active Substance: CALCIUM
     Indication: Product used for unknown indication
     Dosage: UNK
     Dates: start: 20210504
  62. CEFUROXIME [Concomitant]
     Active Substance: CEFUROXIME
     Indication: Product used for unknown indication
     Dosage: UNK
     Route: 065
     Dates: start: 20210509
  63. CEFUROXIME [Concomitant]
     Active Substance: CEFUROXIME
     Indication: Product used for unknown indication
     Dosage: UNK
  64. CEFUROXIME [Concomitant]
     Active Substance: CEFUROXIME
     Indication: Product used for unknown indication
     Dosage: DOSAGE TEXT: UNK UNK, UNKNOWN FREQ.
     Route: 065
  65. CHLORHEXIDINE [Concomitant]
     Active Substance: CHLORHEXIDINE\CHLORHEXIDINE GLUCONATE
     Indication: Hiatus hernia
     Dosage: UNK
  66. CHLORHEXIDINE [Concomitant]
     Active Substance: CHLORHEXIDINE\CHLORHEXIDINE GLUCONATE
     Indication: Hiatus hernia
     Route: 065
  67. CLEMASTINE FUMARATE [Concomitant]
     Active Substance: CLEMASTINE FUMARATE
     Indication: Product used for unknown indication
     Dosage: UNK
     Route: 065
  68. CLEMASTINE FUMARATE [Concomitant]
     Active Substance: CLEMASTINE FUMARATE
     Indication: Product used for unknown indication
     Dosage: UNK
     Dates: start: 20210509
  69. CLEMASTINE FUMARATE [Concomitant]
     Active Substance: CLEMASTINE FUMARATE
     Indication: Product used for unknown indication
     Route: 065
     Dates: start: 20210509
  70. CLEMASTINE FUMARATE [Concomitant]
     Active Substance: CLEMASTINE FUMARATE
     Indication: Product used for unknown indication
     Dosage: UNK
     Dates: start: 20210509
  71. CHOLECALCIFEROL [Concomitant]
     Active Substance: CHOLECALCIFEROL
     Indication: Product used for unknown indication
     Dosage: UNK
     Route: 065
  72. CHOLECALCIFEROL [Concomitant]
     Active Substance: CHOLECALCIFEROL
     Indication: Product used for unknown indication
     Dosage: UNK
     Dates: start: 20210504
  73. CHOLECALCIFEROL [Concomitant]
     Active Substance: CHOLECALCIFEROL
     Indication: Product used for unknown indication
     Route: 065
     Dates: start: 20210504
  74. CHOLECALCIFEROL [Concomitant]
     Active Substance: CHOLECALCIFEROL
     Indication: Product used for unknown indication
     Dosage: UNK
     Dates: start: 20210504
  75. CHOLECALCIFEROL [Concomitant]
     Active Substance: CHOLECALCIFEROL
     Indication: Product used for unknown indication
     Dosage: DOSAGE TEXT: UNK UNK, UNKNOWN FREQ.
     Route: 065
     Dates: start: 20210504
  76. DAPSONE [Concomitant]
     Active Substance: DAPSONE
     Indication: Headache
     Dosage: UNK UNK, QD
     Dates: start: 20210625
  77. DAPSONE [Concomitant]
     Active Substance: DAPSONE
     Indication: Headache
     Route: 065
     Dates: start: 20200625
  78. DAPSONE [Concomitant]
     Active Substance: DAPSONE
     Indication: Headache
     Dosage: UNK, QD
     Dates: start: 20210625
  79. DAPSONE [Concomitant]
     Active Substance: DAPSONE
     Indication: Headache
     Route: 065
     Dates: start: 20210607
  80. DAPSONE [Concomitant]
     Active Substance: DAPSONE
     Indication: Headache
     Dosage: DOSE: 1; UNK UNK, QD
     Dates: start: 20210625
  81. DAPSONE [Concomitant]
     Active Substance: DAPSONE
     Indication: Headache
     Route: 065
  82. DAPSONE [Concomitant]
     Active Substance: DAPSONE
     Indication: Headache
     Dosage: UNK UNK, QD
     Dates: start: 20200625
  83. DAPSONE [Concomitant]
     Active Substance: DAPSONE
     Indication: Headache
     Dosage: UNK
  84. DEXAMETHASONE [Concomitant]
     Active Substance: DEXAMETHASONE
     Indication: Headache
     Dosage: UNK QD
     Dates: start: 20200625
  85. DEXAMETHASONE [Concomitant]
     Active Substance: DEXAMETHASONE
     Indication: Headache
     Dosage: DOSAGE TEXT: UNK UNK, UNKNOWN FREQ.
     Route: 065
  86. DEXAMETHASONE [Concomitant]
     Active Substance: DEXAMETHASONE
     Indication: Headache
     Dosage: DOSE: 1UNK UNK, QD
     Dates: start: 20200625
  87. DEXAMETHASONE [Concomitant]
     Active Substance: DEXAMETHASONE
     Indication: Headache
     Route: 065
     Dates: start: 20200625
  88. DEXAMETHASONE [Concomitant]
     Active Substance: DEXAMETHASONE
     Indication: Headache
     Dosage: UNK, QD (DOSE: 1, EVERY 1 DAY)
     Dates: start: 20200625
  89. FLUTICASONE FUROATE [Concomitant]
     Active Substance: FLUTICASONE FUROATE
     Indication: Product used for unknown indication
     Dosage: UNK
     Route: 065
     Dates: start: 20210708
  90. FLUTICASONE FUROATE [Concomitant]
     Active Substance: FLUTICASONE FUROATE
     Indication: Product used for unknown indication
     Dosage: UNK
  91. FLUTICASONE FUROATE [Concomitant]
     Active Substance: FLUTICASONE FUROATE
     Indication: Product used for unknown indication
     Route: 065
  92. FLUTICASONE FUROATE [Concomitant]
     Active Substance: FLUTICASONE FUROATE
     Indication: Product used for unknown indication
     Route: 065
     Dates: start: 20210708
  93. GELCLAIR [Concomitant]
     Indication: Product used for unknown indication
     Dosage: UNK
  94. GELCLAIR [Concomitant]
     Indication: Product used for unknown indication
     Route: 065
  95. GELCLAIR [Concomitant]
     Indication: Product used for unknown indication
     Dosage: UNK
     Dates: start: 20200407, end: 20200409
  96. GELCLAIR [Concomitant]
     Indication: Product used for unknown indication
     Route: 065
     Dates: start: 20200407, end: 20200409
  97. HYDROCORTISONE [Concomitant]
     Active Substance: HYDROCORTISONE
     Indication: Product used for unknown indication
     Dosage: UNK
     Route: 065
     Dates: start: 20210715, end: 20211004
  98. HYDROCORTISONE [Concomitant]
     Active Substance: HYDROCORTISONE
     Indication: Product used for unknown indication
     Dosage: UNK
  99. HYDROCORTISONE [Concomitant]
     Active Substance: HYDROCORTISONE
     Indication: Product used for unknown indication
     Route: 065
     Dates: start: 20210715, end: 20211004
  100. HYDROCORTISONE [Concomitant]
     Active Substance: HYDROCORTISONE
     Indication: Product used for unknown indication
     Route: 065
     Dates: start: 20210715
  101. HYDROCORTISONE [Concomitant]
     Active Substance: HYDROCORTISONE
     Indication: Product used for unknown indication
     Route: 065
     Dates: start: 20210715
  102. HYDROCORTISONE [Concomitant]
     Active Substance: HYDROCORTISONE
     Indication: Product used for unknown indication
     Dosage: DOSAGE TEXT:  (START DATE: 21-JUL-2021)
     Route: 065
     Dates: end: 20210721
  103. HYDROCORTISONE [Concomitant]
     Active Substance: HYDROCORTISONE
     Indication: Product used for unknown indication
     Route: 065
  104. LANSOPRAZOLE [Concomitant]
     Active Substance: LANSOPRAZOLE
     Indication: Product used for unknown indication
     Dosage: UNK
  105. LANSOPRAZOLE [Concomitant]
     Active Substance: LANSOPRAZOLE
     Indication: Product used for unknown indication
     Route: 065
  106. LANSOPRAZOLE [Concomitant]
     Active Substance: LANSOPRAZOLE
     Indication: Product used for unknown indication
  107. LANSOPRAZOLE [Concomitant]
     Active Substance: LANSOPRAZOLE
     Indication: Product used for unknown indication
     Route: 065
     Dates: start: 20210518
  108. LOPERAMIDE [Concomitant]
     Active Substance: LOPERAMIDE
     Indication: Product used for unknown indication
     Dosage: UNK
     Route: 065
     Dates: start: 20120823
  109. LOPERAMIDE [Concomitant]
     Active Substance: LOPERAMIDE
     Indication: Product used for unknown indication
     Dosage: UNK
     Dates: start: 20210518
  110. LOPERAMIDE [Concomitant]
     Active Substance: LOPERAMIDE
     Indication: Product used for unknown indication
     Route: 065
     Dates: start: 20210518
  111. LOPERAMIDE [Concomitant]
     Active Substance: LOPERAMIDE
     Indication: Product used for unknown indication
     Dosage: UNK
     Dates: start: 20210518
  112. LOPERAMIDE [Concomitant]
     Active Substance: LOPERAMIDE
     Indication: Product used for unknown indication
     Route: 065
     Dates: start: 20210518
  113. LOPERAMIDE [Concomitant]
     Active Substance: LOPERAMIDE
     Indication: Product used for unknown indication
     Dosage: UNK
     Dates: start: 20200214
  114. LOPERAMIDE [Concomitant]
     Active Substance: LOPERAMIDE
     Indication: Product used for unknown indication
     Dosage: UNK
  115. METOCLOPRAMIDE [Concomitant]
     Active Substance: METOCLOPRAMIDE
     Indication: Pain
     Dosage: UNK, TID
     Dates: start: 20200214, end: 20200220
  116. METOCLOPRAMIDE [Concomitant]
     Active Substance: METOCLOPRAMIDE
     Indication: Pain
     Route: 065
  117. METOCLOPRAMIDE [Concomitant]
     Active Substance: METOCLOPRAMIDE
     Indication: Pain
     Dosage: DOSE: 3, 1 DAY; [0.33/DAY]
     Dates: start: 20200214, end: 20200222
  118. METOCLOPRAMIDE [Concomitant]
     Active Substance: METOCLOPRAMIDE
     Indication: Pain
     Dosage: DOSAGE TEXT: 0.33
     Route: 065
     Dates: start: 20200214, end: 20200220
  119. METOCLOPRAMIDE [Concomitant]
     Active Substance: METOCLOPRAMIDE
     Indication: Pain
     Dosage: 0.33 UNK, QD
     Dates: start: 20200214, end: 20200222
  120. METOCLOPRAMIDE [Concomitant]
     Active Substance: METOCLOPRAMIDE
     Indication: Pain
     Dosage: DOSAGE TEXT: 0.33
     Route: 065
     Dates: start: 20200214, end: 20200222
  121. METOCLOPRAMIDE [Concomitant]
     Active Substance: METOCLOPRAMIDE
     Indication: Pain
     Dosage: UNK
     Dates: start: 20200214, end: 20200220
  122. METOCLOPRAMIDE [Concomitant]
     Active Substance: METOCLOPRAMIDE
     Indication: Pain
     Route: 065
     Dates: start: 20210509
  123. METOCLOPRAMIDE [Concomitant]
     Active Substance: METOCLOPRAMIDE
     Indication: Pain
     Dosage: 0.33/DAY
     Dates: start: 20200214, end: 20200222
  124. METOCLOPRAMIDE [Concomitant]
     Active Substance: METOCLOPRAMIDE
     Indication: Pain
     Route: 065
     Dates: start: 20210509
  125. METOCLOPRAMIDE [Concomitant]
     Active Substance: METOCLOPRAMIDE
     Indication: Pain
     Dosage: UNK UNK, TID (DOSE: 3, EVERY 1 DAY)
     Dates: start: 20200214, end: 20200222
  126. METOCLOPRAMIDE [Concomitant]
     Active Substance: METOCLOPRAMIDE
     Indication: Pain
     Dosage: UNK
     Dates: start: 20210509
  127. METOCLOPRAMIDE [Concomitant]
     Active Substance: METOCLOPRAMIDE
     Indication: Pain
     Dosage: UNK
  128. METOCLOPRAMIDE [Concomitant]
     Active Substance: METOCLOPRAMIDE
     Indication: Pain
     Dosage: UNK, TID
     Dates: start: 20200214, end: 20200220
  129. METOCLOPRAMIDE [Concomitant]
     Active Substance: METOCLOPRAMIDE
     Indication: Pain
     Dosage: UNK
     Dates: start: 20210509
  130. METOCLOPRAMIDE [Concomitant]
     Active Substance: METOCLOPRAMIDE
     Indication: Pain
     Dosage: UNK, TID (0.33 DAY)
     Dates: start: 20200214, end: 20200222
  131. METOCLOPRAMIDE [Concomitant]
     Active Substance: METOCLOPRAMIDE
     Indication: Pain
     Dosage: UNK, TID (0.33 DAY)
     Dates: start: 20200214, end: 20200220
  132. METOCLOPRAMIDE [Concomitant]
     Active Substance: METOCLOPRAMIDE
     Indication: Pain
     Dosage: UNK
     Dates: start: 20210509
  133. MICONAZOLE NITRATE [Concomitant]
     Active Substance: MICONAZOLE NITRATE
     Indication: Product used for unknown indication
     Dosage: UNK
     Route: 065
     Dates: start: 20210715
  134. MICONAZOLE NITRATE [Concomitant]
     Active Substance: MICONAZOLE NITRATE
     Indication: Product used for unknown indication
     Dosage: UNK
     Dates: start: 20210715
  135. MICONAZOLE NITRATE [Concomitant]
     Active Substance: MICONAZOLE NITRATE
     Indication: Product used for unknown indication
     Route: 065
     Dates: start: 20210715
  136. MICONAZOLE NITRATE [Concomitant]
     Active Substance: MICONAZOLE NITRATE
     Indication: Product used for unknown indication
     Dosage: UNK
  137. MICONAZOLE NITRATE [Concomitant]
     Active Substance: MICONAZOLE NITRATE
     Indication: Product used for unknown indication
     Route: 065
     Dates: start: 20210715
  138. MORPHINE SULFATE [Concomitant]
     Active Substance: MORPHINE SULFATE
     Indication: Pain
     Dosage: UNK
  139. MORPHINE SULFATE [Concomitant]
     Active Substance: MORPHINE SULFATE
     Indication: Pain
     Route: 065
  140. NITROFURANTOIN [Concomitant]
     Active Substance: NITROFURANTOIN
     Indication: Hiatus hernia
     Dosage: UNK UNK, QD (DOSE: 1, EVERY 1 DAY)
     Dates: start: 20200204
  141. NITROFURANTOIN [Concomitant]
     Active Substance: NITROFURANTOIN
     Indication: Hiatus hernia
     Route: 065
     Dates: start: 20200204
  142. NITROFURANTOIN [Concomitant]
     Active Substance: NITROFURANTOIN
     Indication: Hiatus hernia
     Dosage: UNK, QD
     Dates: start: 20200204
  143. NITROFURANTOIN [Concomitant]
     Active Substance: NITROFURANTOIN
     Indication: Hiatus hernia
     Dosage: DOSE: 1, 1 DAY
     Dates: start: 20200204
  144. NITROFURANTOIN [Concomitant]
     Active Substance: NITROFURANTOIN
     Indication: Hiatus hernia
     Dosage: UNK UNK, QD
     Dates: start: 20200204
  145. ONDANSETRON [Concomitant]
     Active Substance: ONDANSETRON
     Indication: Product used for unknown indication
     Dosage: UNK
  146. ONDANSETRON [Concomitant]
     Active Substance: ONDANSETRON
     Indication: Product used for unknown indication
     Route: 065
  147. ONDANSETRON [Concomitant]
     Active Substance: ONDANSETRON
     Indication: Product used for unknown indication
     Dosage: UNK
     Dates: start: 20210509
  148. ONDANSETRON [Concomitant]
     Active Substance: ONDANSETRON
     Indication: Product used for unknown indication
     Route: 065
     Dates: start: 20210509
  149. ONDANSETRON [Concomitant]
     Active Substance: ONDANSETRON
     Indication: Product used for unknown indication
     Dosage: UNK
     Dates: start: 20210509
  150. ONDANSETRON [Concomitant]
     Active Substance: ONDANSETRON
     Indication: Product used for unknown indication
     Route: 065
     Dates: start: 20210509
  151. ONDANSETRON [Concomitant]
     Active Substance: ONDANSETRON
     Indication: Product used for unknown indication
     Dosage: 8 MILLIGRAM (INITIATED-10-FEB-2022)
     Dates: start: 20220210, end: 20220210
  152. ONDANSETRON [Concomitant]
     Active Substance: ONDANSETRON
     Indication: Product used for unknown indication
     Route: 065
     Dates: start: 20210509
  153. ONDANSETRON [Concomitant]
     Active Substance: ONDANSETRON
     Indication: Product used for unknown indication
     Dosage: 8 MILLIGRAM
     Route: 065
     Dates: start: 20220210, end: 20220210
  154. MORPHINE SULFATE [Concomitant]
     Active Substance: MORPHINE SULFATE
     Indication: Pain
     Dosage: UNK
  155. MORPHINE SULFATE [Concomitant]
     Active Substance: MORPHINE SULFATE
     Indication: Pain
     Route: 065
  156. ATEZOLIZUMAB [Suspect]
     Active Substance: ATEZOLIZUMAB
     Indication: Product used for unknown indication
     Dosage: 1200 MILLIGRAM
     Route: 042
     Dates: start: 20200210, end: 20200210
  157. ATEZOLIZUMAB [Suspect]
     Active Substance: ATEZOLIZUMAB
     Indication: Product used for unknown indication
     Route: 042
     Dates: start: 20200210
  158. ATEZOLIZUMAB [Suspect]
     Active Substance: ATEZOLIZUMAB
     Indication: Product used for unknown indication
     Dosage: 1200 MILLIGRAM, Q3WK
     Route: 042
     Dates: start: 20200210
  159. ATEZOLIZUMAB [Suspect]
     Active Substance: ATEZOLIZUMAB
     Indication: Product used for unknown indication
     Route: 042
     Dates: start: 20200210
  160. ATEZOLIZUMAB [Suspect]
     Active Substance: ATEZOLIZUMAB
     Indication: Product used for unknown indication
     Dosage: 3600 MILLIGRAM, QWK
     Route: 042
     Dates: start: 20200210
  161. ATEZOLIZUMAB [Suspect]
     Active Substance: ATEZOLIZUMAB
     Indication: Product used for unknown indication
     Route: 042
     Dates: start: 20200309
  162. ATEZOLIZUMAB [Suspect]
     Active Substance: ATEZOLIZUMAB
     Indication: Product used for unknown indication
     Route: 041
     Dates: end: 20200309
  163. ATEZOLIZUMAB [Suspect]
     Active Substance: ATEZOLIZUMAB
     Indication: Product used for unknown indication
     Route: 042
     Dates: start: 20200406
  164. ATEZOLIZUMAB [Suspect]
     Active Substance: ATEZOLIZUMAB
     Indication: Product used for unknown indication
     Route: 041
     Dates: end: 20200406
  165. ATEZOLIZUMAB [Suspect]
     Active Substance: ATEZOLIZUMAB
     Indication: Product used for unknown indication
     Route: 042
     Dates: start: 20200427
  166. ATEZOLIZUMAB [Suspect]
     Active Substance: ATEZOLIZUMAB
     Indication: Product used for unknown indication
     Route: 042
     Dates: start: 20200427, end: 20200625
  167. ATEZOLIZUMAB [Suspect]
     Active Substance: ATEZOLIZUMAB
     Indication: Product used for unknown indication
     Route: 042
     Dates: start: 20200518
  168. ATEZOLIZUMAB [Suspect]
     Active Substance: ATEZOLIZUMAB
     Indication: Product used for unknown indication
     Route: 065
     Dates: start: 20200518
  169. ATEZOLIZUMAB [Suspect]
     Active Substance: ATEZOLIZUMAB
     Indication: Product used for unknown indication
     Route: 042
     Dates: start: 20200606
  170. ATEZOLIZUMAB [Suspect]
     Active Substance: ATEZOLIZUMAB
     Indication: Product used for unknown indication
     Route: 065
     Dates: start: 20200608
  171. ATEZOLIZUMAB [Suspect]
     Active Substance: ATEZOLIZUMAB
     Indication: Product used for unknown indication
     Route: 042
     Dates: start: 20200608
  172. ATEZOLIZUMAB [Suspect]
     Active Substance: ATEZOLIZUMAB
     Indication: Product used for unknown indication
     Route: 042
     Dates: start: 20200625
  173. ATEZOLIZUMAB [Suspect]
     Active Substance: ATEZOLIZUMAB
     Indication: Product used for unknown indication
     Route: 042
     Dates: start: 20200625
  174. ATEZOLIZUMAB [Suspect]
     Active Substance: ATEZOLIZUMAB
     Indication: Product used for unknown indication
     Route: 065
     Dates: start: 20200718
  175. ATEZOLIZUMAB [Suspect]
     Active Substance: ATEZOLIZUMAB
     Indication: Product used for unknown indication
     Route: 042
     Dates: start: 20220406
  176. ATEZOLIZUMAB [Suspect]
     Active Substance: ATEZOLIZUMAB
     Indication: Product used for unknown indication
     Route: 042
  177. ATEZOLIZUMAB [Suspect]
     Active Substance: ATEZOLIZUMAB
     Indication: Product used for unknown indication
     Route: 042
  178. OXETACAINE [Concomitant]
     Active Substance: OXETHAZAINE
     Indication: Mucosal inflammation
     Dosage: UNK
     Dates: start: 20200221
  179. OXETACAINE [Concomitant]
     Active Substance: OXETHAZAINE
     Indication: Mucosal inflammation
     Route: 065
  180. OXETACAINE [Concomitant]
     Active Substance: OXETHAZAINE
     Indication: Mucosal inflammation
     Route: 065
     Dates: start: 20200221
  181. ACETAMINOPHEN [Concomitant]
     Active Substance: ACETAMINOPHEN
     Indication: Pain
     Dosage: UNK
     Dates: start: 20210308
  182. ACETAMINOPHEN [Concomitant]
     Active Substance: ACETAMINOPHEN
     Indication: Pain
     Dosage: TIME INTERVAL: AS NECESSARY
     Route: 065
     Dates: start: 20210308
  183. ACETAMINOPHEN [Concomitant]
     Active Substance: ACETAMINOPHEN
     Indication: Pain
     Dosage: AS NECESSARY
  184. ACETAMINOPHEN [Concomitant]
     Active Substance: ACETAMINOPHEN
     Indication: Pain
     Dosage: UNK
     Dates: start: 20210708
  185. ACETAMINOPHEN [Concomitant]
     Active Substance: ACETAMINOPHEN
     Indication: Pain
     Dosage: UNK, PRN
  186. ACETAMINOPHEN [Concomitant]
     Active Substance: ACETAMINOPHEN
     Indication: Pain
     Dosage: UNK
  187. ACETAMINOPHEN [Concomitant]
     Active Substance: ACETAMINOPHEN
     Indication: Pain
     Dosage: UNK UNK, AS NECESSARY
  188. ACETAMINOPHEN [Concomitant]
     Active Substance: ACETAMINOPHEN
     Indication: Pain
     Dosage: DOSE: 1, 1 AS NECESSARY
     Dates: start: 20210308
  189. AMDINOCILLIN PIVOXIL [Concomitant]
     Active Substance: AMDINOCILLIN PIVOXIL
     Indication: Product used for unknown indication
     Dosage: UNK
     Route: 065
  190. AMDINOCILLIN PIVOXIL [Concomitant]
     Active Substance: AMDINOCILLIN PIVOXIL
     Indication: Product used for unknown indication
     Route: 065
  191. AMDINOCILLIN PIVOXIL [Concomitant]
     Active Substance: AMDINOCILLIN PIVOXIL
     Indication: Product used for unknown indication
     Dosage: UNK
  192. AMDINOCILLIN PIVOXIL [Concomitant]
     Active Substance: AMDINOCILLIN PIVOXIL
     Indication: Product used for unknown indication
     Route: 065
  193. POTASSIUM CHLORIDE [Concomitant]
     Active Substance: POTASSIUM CHLORIDE
     Indication: Product used for unknown indication
     Dosage: UNK
     Route: 065
     Dates: start: 20210308
  194. POTASSIUM CHLORIDE [Concomitant]
     Active Substance: POTASSIUM CHLORIDE
     Indication: Product used for unknown indication
     Dosage: UNK
     Dates: start: 20210712
  195. POTASSIUM CHLORIDE [Concomitant]
     Active Substance: POTASSIUM CHLORIDE
     Indication: Product used for unknown indication
     Route: 065
     Dates: start: 20210308
  196. POTASSIUM CHLORIDE [Concomitant]
     Active Substance: POTASSIUM CHLORIDE
     Indication: Product used for unknown indication
     Dosage: UNK
     Dates: start: 20210308
  197. POTASSIUM CHLORIDE [Concomitant]
     Active Substance: POTASSIUM CHLORIDE
     Indication: Product used for unknown indication
     Route: 065
     Dates: start: 20210308
  198. POTASSIUM CHLORIDE [Concomitant]
     Active Substance: POTASSIUM CHLORIDE
     Indication: Product used for unknown indication
     Route: 065
     Dates: start: 20210712
  199. PRAMIPEXOLE [Concomitant]
     Active Substance: PRAMIPEXOLE\PRAMIPEXOLE DIHYDROCHLORIDE
     Indication: Pain
     Dosage: UNK
  200. PRAMIPEXOLE [Concomitant]
     Active Substance: PRAMIPEXOLE\PRAMIPEXOLE DIHYDROCHLORIDE
     Indication: Pain
     Route: 065
  201. PRAMIPEXOLE [Concomitant]
     Active Substance: PRAMIPEXOLE\PRAMIPEXOLE DIHYDROCHLORIDE
     Indication: Pain
  202. PRAMIPEXOLE [Concomitant]
     Active Substance: PRAMIPEXOLE\PRAMIPEXOLE DIHYDROCHLORIDE
     Indication: Pain
     Route: 065
     Dates: start: 20120823
  203. PRAMIPEXOLE [Concomitant]
     Active Substance: PRAMIPEXOLE\PRAMIPEXOLE DIHYDROCHLORIDE
     Indication: Pain
     Dosage: UNK
     Dates: start: 20120823
  204. ALBUTEROL [Concomitant]
     Active Substance: ALBUTEROL
     Indication: Product used for unknown indication
     Dosage: UNK
     Route: 065
  205. ALBUTEROL [Concomitant]
     Active Substance: ALBUTEROL
     Indication: Product used for unknown indication
     Dosage: UNK
  206. ALBUTEROL [Concomitant]
     Active Substance: ALBUTEROL
     Indication: Product used for unknown indication
     Route: 065
     Dates: start: 20210708
  207. ALBUTEROL [Concomitant]
     Active Substance: ALBUTEROL
     Indication: Product used for unknown indication
     Dosage: UNK
     Dates: start: 20210708
  208. ALBUTEROL [Concomitant]
     Active Substance: ALBUTEROL
     Indication: Product used for unknown indication
     Route: 065
     Dates: start: 20210708
  209. ALBUTEROL [Concomitant]
     Active Substance: ALBUTEROL
     Indication: Product used for unknown indication
     Dosage: UNK
     Dates: start: 20210708
  210. BUTYLSCOPOLAMINE BROMIDE [Concomitant]
     Active Substance: BUTYLSCOPOLAMINE BROMIDE
     Indication: Product used for unknown indication
     Dosage: UNK
  211. BUTYLSCOPOLAMINE BROMIDE [Concomitant]
     Active Substance: BUTYLSCOPOLAMINE BROMIDE
     Indication: Product used for unknown indication
     Route: 065
     Dates: start: 20210504
  212. PREDNISOLONE [Concomitant]
     Active Substance: PREDNISOLONE
     Indication: Prophylaxis
     Dosage: UNK
     Dates: start: 20210309, end: 20210503
  213. PREDNISOLONE [Concomitant]
     Active Substance: PREDNISOLONE
     Indication: Prophylaxis
     Route: 065
  214. PREDNISOLONE [Concomitant]
     Active Substance: PREDNISOLONE
     Indication: Prophylaxis
     Dosage: 100 MILLIGRAM
     Route: 048
     Dates: start: 20210511, end: 20210513
  215. PREDNISOLONE [Concomitant]
     Active Substance: PREDNISOLONE
     Indication: Prophylaxis
     Dosage: UNK
     Dates: start: 20210705, end: 20210705
  216. PREDNISOLONE [Concomitant]
     Active Substance: PREDNISOLONE
     Indication: Prophylaxis
     Route: 048
     Dates: start: 20210309, end: 20210311
  217. PREDNISOLONE [Concomitant]
     Active Substance: PREDNISOLONE
     Indication: Prophylaxis
     Route: 048
     Dates: start: 20210309, end: 20210311
  218. PREDNISOLONE [Concomitant]
     Active Substance: PREDNISOLONE
     Indication: Prophylaxis
     Route: 048
     Dates: start: 20210309, end: 20210705
  219. PREDNISOLONE [Concomitant]
     Active Substance: PREDNISOLONE
     Indication: Prophylaxis
     Route: 048
     Dates: start: 20210309, end: 20210705
  220. PREDNISOLONE [Concomitant]
     Active Substance: PREDNISOLONE
     Indication: Prophylaxis
     Route: 048
     Dates: start: 20210607, end: 20210705
  221. PREDNISOLONE [Concomitant]
     Active Substance: PREDNISOLONE
     Indication: Prophylaxis
     Route: 048
     Dates: start: 20210607, end: 20210705
  222. PREDNISOLONE [Concomitant]
     Active Substance: PREDNISOLONE
     Indication: Prophylaxis
     Route: 048
     Dates: start: 20210705, end: 20210705
  223. CLAVULANATE POTASSIUM [Concomitant]
     Active Substance: CLAVULANATE POTASSIUM
     Indication: Product used for unknown indication
     Dosage: UNK
  224. HYDROCORTISONE\MICONAZOLE NITRATE [Concomitant]
     Active Substance: HYDROCORTISONE\MICONAZOLE NITRATE
     Indication: Product used for unknown indication
     Route: 065
  225. HYDROCORTISONE\MICONAZOLE NITRATE [Concomitant]
     Active Substance: HYDROCORTISONE\MICONAZOLE NITRATE
     Indication: Product used for unknown indication
     Route: 065
     Dates: start: 20210715
  226. IMODIUM [Concomitant]
     Active Substance: LOPERAMIDE HYDROCHLORIDE
     Indication: Product used for unknown indication
     Dosage: UNK
  227. IMODIUM [Concomitant]
     Active Substance: LOPERAMIDE HYDROCHLORIDE
     Indication: Product used for unknown indication
     Route: 065
     Dates: start: 20210518
  228. IMODIUM [Concomitant]
     Active Substance: LOPERAMIDE HYDROCHLORIDE
     Indication: Product used for unknown indication
     Dosage: UNK
     Dates: start: 20210518
  229. BEVACIZUMAB [Suspect]
     Active Substance: BEVACIZUMAB
     Indication: Non-small cell lung cancer
     Dosage: 1200 MG, 1 WEEK; CUMULATIVE DOSE TO FIRST REACTION: 685.7143 MG
     Route: 042
     Dates: start: 20200210
  230. BEVACIZUMAB [Suspect]
     Active Substance: BEVACIZUMAB
     Indication: Non-small cell lung cancer
     Dosage: 1200 MG, 2 WEEK; CUMULATIVE DOSE TO FIRST REACTION: 342.85715 MG
     Route: 042
     Dates: start: 20200210
  231. BEVACIZUMAB [Suspect]
     Active Substance: BEVACIZUMAB
     Indication: Non-small cell lung cancer
     Dosage: 1200 MILLIGRAM, Q3W (228.57143 MG)
     Route: 042
     Dates: start: 20200210
  232. BEVACIZUMAB [Suspect]
     Active Substance: BEVACIZUMAB
     Indication: Non-small cell lung cancer
     Dosage: 1100 MG
     Route: 042
     Dates: start: 20200210
  233. BEVACIZUMAB [Suspect]
     Active Substance: BEVACIZUMAB
     Indication: Non-small cell lung cancer
     Dosage: UNK UNK, 2/WEEK
     Route: 065
  234. BEVACIZUMAB [Suspect]
     Active Substance: BEVACIZUMAB
     Indication: Non-small cell lung cancer
     Route: 065
  235. BEVACIZUMAB [Suspect]
     Active Substance: BEVACIZUMAB
     Indication: Non-small cell lung cancer
     Dosage: 1200 MILLIGRAM, QW (CUMULATIVE DOSE TO FIRST REACTION: 88792.86 MG)
     Route: 042
     Dates: start: 20200210
  236. BEVACIZUMAB [Suspect]
     Active Substance: BEVACIZUMAB
     Indication: Non-small cell lung cancer
     Dosage: 2400 MG, QW (CUMULATIVE DOSE TO FIRST REACTION: 134400.0 MG 2400 MILLIGRAM, QWK2400
     Route: 042
     Dates: start: 20200210
  237. BEVACIZUMAB [Suspect]
     Active Substance: BEVACIZUMAB
     Indication: Non-small cell lung cancer
     Dosage: 1100 MILLIGRAM, QW
     Route: 065
     Dates: start: 20200210
  238. BEVACIZUMAB [Suspect]
     Active Substance: BEVACIZUMAB
     Indication: Non-small cell lung cancer
     Dosage: 1200 MILLIGRAM, BIWEEKLY
     Route: 065
     Dates: start: 20200210
  239. BEVACIZUMAB [Suspect]
     Active Substance: BEVACIZUMAB
     Indication: Non-small cell lung cancer
     Dosage: 1200 MG, Q2W (BIWEEKLY)
     Route: 065
     Dates: start: 20200210
  240. BEVACIZUMAB [Suspect]
     Active Substance: BEVACIZUMAB
     Indication: Non-small cell lung cancer
     Dosage: 1200 MILLIGRAM, QW
     Route: 065
     Dates: start: 20200210
  241. BEVACIZUMAB [Suspect]
     Active Substance: BEVACIZUMAB
     Indication: Non-small cell lung cancer
     Dosage: 1100 MG
     Route: 065
     Dates: start: 20200210
  242. BEVACIZUMAB [Suspect]
     Active Substance: BEVACIZUMAB
     Indication: Non-small cell lung cancer
     Dosage: 1200 MILLIGRAM, QWK
     Route: 065
     Dates: start: 20200210
  243. BEVACIZUMAB [Suspect]
     Active Substance: BEVACIZUMAB
     Indication: Non-small cell lung cancer
     Dosage: CUMULATIVE DOSE TO FIRST REACTION: 1371.4286 MG 2400 MILLIGRAM, QWK
     Route: 065
     Dates: start: 20200210
  244. BEVACIZUMAB [Suspect]
     Active Substance: BEVACIZUMAB
     Indication: Non-small cell lung cancer
     Dosage: 1200 MG, QW (1200 MG, 2 WEEK; CUMULATIVE DOSE TO FIRST REACTION: 342.85715 MG)
     Route: 065
     Dates: start: 20200210
  245. BEVACIZUMAB [Suspect]
     Active Substance: BEVACIZUMAB
     Indication: Non-small cell lung cancer
     Dosage: 1200 MG, QW 1200 MG, 1 WEEK; CUMULATIVE DOSE TO FIRST REACTION: 685.7143 MG
     Route: 065
     Dates: start: 20200210
  246. BEVACIZUMAB [Suspect]
     Active Substance: BEVACIZUMAB
     Indication: Non-small cell lung cancer
     Dosage: 1200 MG, 1 WEEK; CUMULATIVE DOSE TO FIRST REACTION: 685.7143 MG
     Route: 065
     Dates: start: 20200210
  247. BEVACIZUMAB [Suspect]
     Active Substance: BEVACIZUMAB
     Indication: Non-small cell lung cancer
     Dosage: 1200 MILLIGRAM, BIWEEKLY; CUMULATIVE DOSE TO FIRST REACTION: 44396.43 MG
     Route: 065
     Dates: start: 20200210
  248. BEVACIZUMAB [Suspect]
     Active Substance: BEVACIZUMAB
     Indication: Non-small cell lung cancer
     Dosage: CUMULATIVE DOSE TO FIRST REACTION: 134400.0 MG 2400 MILLIGRAM, QWK2400 MILLIGRAM, QWK
     Route: 065
     Dates: start: 20200210
  249. BEVACIZUMAB [Suspect]
     Active Substance: BEVACIZUMAB
     Indication: Non-small cell lung cancer
     Dosage: 1100 MG, QW (CUMULATIVE DOSE TO FIRST REACTION: 685.714 MILLIGRAMS)
     Route: 065
     Dates: start: 20200210
  250. BEVACIZUMAB [Suspect]
     Active Substance: BEVACIZUMAB
     Indication: Non-small cell lung cancer
     Dosage: 3600 MG, QW (1200 MILLIGRAM, 3XW (CUMULATIVE DOSE TO FIRST REACTION: 266378.56 MG))
     Route: 065
     Dates: start: 20200210
  251. BEVACIZUMAB [Suspect]
     Active Substance: BEVACIZUMAB
     Indication: Non-small cell lung cancer
     Dosage: UNK, CUMULATIVE DOSE TO FIRST REACTION- 685.714 MILLIGRAM
     Route: 065
  252. BEVACIZUMAB [Suspect]
     Active Substance: BEVACIZUMAB
     Indication: Non-small cell lung cancer
     Dosage: TIME INTERVAL: 0.33333333 WEEKS: 1200 MILLIGRAM, QW; CUMULATIVE DOSE TO FIRST REACTION: 685.7143 MG
     Route: 065
     Dates: start: 20200210
  253. BEVACIZUMAB [Suspect]
     Active Substance: BEVACIZUMAB
     Indication: Non-small cell lung cancer
     Dosage: 2400 MG, QW (1200 MILLIGRAM, BIWEEKLY) CUMULATIVE DOSE: 1371.4286 MG
     Route: 065
  254. BEVACIZUMAB [Suspect]
     Active Substance: BEVACIZUMAB
     Indication: Non-small cell lung cancer
     Dosage: UNK
     Route: 065
  255. BEVACIZUMAB [Suspect]
     Active Substance: BEVACIZUMAB
     Indication: Non-small cell lung cancer
     Dosage: 1200 MILLIGRAM, 3XW (CUMULATIVE DOSE TO FIRST REACTION: 266378.56 MG)
     Route: 065
     Dates: start: 20200210
  256. BEVACIZUMAB [Suspect]
     Active Substance: BEVACIZUMAB
     Indication: Non-small cell lung cancer
     Dosage: UNK
     Route: 065
  257. BEVACIZUMAB [Suspect]
     Active Substance: BEVACIZUMAB
     Indication: Non-small cell lung cancer
     Dosage: 2400 MG, QW 1200 MILLIGRAM, BIWEEKLY; CUMULATIVE DOSE TO FIRST REACTION: 44396.43 MG
     Route: 065
     Dates: start: 20200210
  258. BEVACIZUMAB [Suspect]
     Active Substance: BEVACIZUMAB
     Indication: Non-small cell lung cancer
     Dosage: 1200 MG, QW
     Route: 065
     Dates: start: 20200210
  259. BEVACIZUMAB [Suspect]
     Active Substance: BEVACIZUMAB
     Indication: Non-small cell lung cancer
     Dosage: UNK (CUMULATIVE DOSE TO FIRST REACTION: 685.714 MILLIGRAMS)
     Route: 065
  260. BEVACIZUMAB [Suspect]
     Active Substance: BEVACIZUMAB
     Indication: Non-small cell lung cancer
     Dosage: 1200 MILLIGRAM, QW; CUMULATIVE DOSE TO FIRST REACTION: 342.85715 MG
     Route: 065
     Dates: start: 20200210
  261. BEVACIZUMAB [Suspect]
     Active Substance: BEVACIZUMAB
     Indication: Non-small cell lung cancer
     Dosage: 1200 MG, 3 WEEK; CUMULATIVE DOSE TO FIRST REACTION: 228.57143 MG
     Route: 065
     Dates: start: 20200210
  262. BEVACIZUMAB [Suspect]
     Active Substance: BEVACIZUMAB
     Indication: Non-small cell lung cancer
     Dosage: 2400 MG, QW (1200 MILLIGRAM, BIWEEKLY)
     Route: 065
     Dates: start: 20200210
  263. BEVACIZUMAB [Suspect]
     Active Substance: BEVACIZUMAB
     Indication: Non-small cell lung cancer
     Dosage: 1100 MILLIGRAM
     Route: 065
     Dates: start: 20200210
  264. BEVACIZUMAB [Suspect]
     Active Substance: BEVACIZUMAB
     Indication: Non-small cell lung cancer
     Dosage: 1200 MILLIGRAM, 3XW
     Route: 065
     Dates: start: 20200210
  265. BEVACIZUMAB [Suspect]
     Active Substance: BEVACIZUMAB
     Indication: Non-small cell lung cancer
     Dosage: TIME INTERVAL: 0.33333333 WEEKS: CUMULATIVE DOSE TO FIRST REACTION: 22400.0.0 MG 2400 MILLIGRAM, ...
     Route: 065
     Dates: start: 20200210
  266. BEVACIZUMAB [Suspect]
     Active Substance: BEVACIZUMAB
     Indication: Non-small cell lung cancer
     Dosage: 1200 MILLIGRAM, QW; CUMULATIVE DOSE TO FIRST REACTION: 685.7143 MG
     Route: 065
     Dates: start: 20200210
  267. BEVACIZUMAB [Suspect]
     Active Substance: BEVACIZUMAB
     Indication: Non-small cell lung cancer
     Dosage: 1100 MILLIGRAM
     Route: 065
     Dates: start: 20200210
  268. BEVACIZUMAB [Suspect]
     Active Substance: BEVACIZUMAB
     Indication: Non-small cell lung cancer
     Dosage: CUMULATIVE DOSE TO FIRST REACTION: 67200.0 MG 2400 MILLIGRAM, QWK2400 MILLIGRAM, QWK
     Route: 065
     Dates: start: 20200210
  269. BEVACIZUMAB [Suspect]
     Active Substance: BEVACIZUMAB
     Indication: Non-small cell lung cancer
     Dosage: TIME INTERVAL: 0.33333333 WEEKS: 1200 MG, Q3W (1200 MG, 3 WEEK; CUMULATIVE DOSE TO FIRST REACTION...
     Route: 065
     Dates: start: 20200210
  270. BEVACIZUMAB [Suspect]
     Active Substance: BEVACIZUMAB
     Indication: Non-small cell lung cancer
     Dosage: 1200 MG, QW (1200 MILLIGRAM, BIWEEKLY; CUMULATIVE DOSE TO FIRST REACTION: 44396.43 MG)
     Route: 065
     Dates: start: 20200210
  271. BEVACIZUMAB [Suspect]
     Active Substance: BEVACIZUMAB
     Indication: Non-small cell lung cancer
     Dosage: 2400 MG, QW (CUMULATIVE DOSE TO FIRST REACTION: 1371.4286 MG 2400 MILLIGRAM, QWK)
     Route: 065
     Dates: start: 20200210
  272. BEVACIZUMAB [Suspect]
     Active Substance: BEVACIZUMAB
     Indication: Non-small cell lung cancer
     Dosage: 2400 MG, Q2W 1200 MG, 2 WEEK; CUMULATIVE DOSE TO FIRST REACTION: 342.85715 MG
     Route: 065
     Dates: start: 20200210
  273. BEVACIZUMAB [Suspect]
     Active Substance: BEVACIZUMAB
     Indication: Non-small cell lung cancer
     Dosage: 2400 MG, BIWEEKLY (ADDITIONAL INFO: 2ND INDICATION:UROTHELIAL CARCINOMA)
     Route: 065
     Dates: start: 20200210
  274. BEVACIZUMAB [Suspect]
     Active Substance: BEVACIZUMAB
     Indication: Non-small cell lung cancer
     Dosage: UNK2400 MG, QW (1200 MILLIGRAM, BIWEEKLY)
     Route: 065
  275. BEVACIZUMAB [Suspect]
     Active Substance: BEVACIZUMAB
     Indication: Non-small cell lung cancer
     Dosage: 1200 MILLIGRAM, Q2W (342.85715 MG)
     Route: 065
     Dates: start: 20200210
  276. BEVACIZUMAB [Suspect]
     Active Substance: BEVACIZUMAB
     Indication: Non-small cell lung cancer
     Dosage: 1100 MG, QW CUMULATIVE DOSE 628.5714 MG
     Route: 065
     Dates: start: 20200210
  277. BEVACIZUMAB [Suspect]
     Active Substance: BEVACIZUMAB
     Indication: Non-small cell lung cancer
     Dosage: 1200 MILLIGRAM, QWK
     Route: 065
  278. TRIMETHOPRIM [Concomitant]
     Active Substance: TRIMETHOPRIM
     Indication: Product used for unknown indication
     Dosage: UNK
     Dates: start: 20210308, end: 20210510
  279. BIOCLAVID [Concomitant]
     Active Substance: AMOXICILLIN\CLAVULANIC ACID
     Indication: Product used for unknown indication
     Route: 065
  280. BIOCLAVID [Concomitant]
     Active Substance: AMOXICILLIN\CLAVULANIC ACID
     Indication: Product used for unknown indication
     Route: 065
     Dates: end: 20210715
  281. RITUXIMAB [Suspect]
     Active Substance: RITUXIMAB
     Indication: Follicular lymphoma
     Dosage: 750 MILLIGRAM, 4XW (CUMULATIVE DOSE TO FIRST REACTION: 3000.0 MG)
     Route: 065
     Dates: start: 20210705
  282. RITUXIMAB [Suspect]
     Active Substance: RITUXIMAB
     Indication: Follicular lymphoma
     Dosage: 300 MILLIGRAM, 1/WEEK; CUMULATIVE DOSE TO FIRST REACTION: 3373.884MG
     Route: 065
     Dates: start: 20210308
  283. RITUXIMAB [Suspect]
     Active Substance: RITUXIMAB
     Indication: Follicular lymphoma
     Dosage: 750 MG
     Route: 065
     Dates: start: 20210308
  284. RITUXIMAB [Suspect]
     Active Substance: RITUXIMAB
     Indication: Follicular lymphoma
     Dosage: 750 MILLIGRAM, 4XW(DATE OF LAST DOSE PRIOR TO EVENT: 9/SEP/2021/ AND 21-SEP, ROA: IV DRIP)
     Route: 065
     Dates: start: 20210308
  285. RITUXIMAB [Suspect]
     Active Substance: RITUXIMAB
     Indication: Follicular lymphoma
     Dosage: 3000 MG, QW (750 MILLIGRAM, 4XW (DATE OF LAST DOSE PRIOR TO EVENT: 9/SEP/2021/ AND 21-SEP, ROA: IV D
     Route: 065
     Dates: start: 20210308
  286. RITUXIMAB [Suspect]
     Active Substance: RITUXIMAB
     Indication: Follicular lymphoma
     Dosage: 750 MG, Q4WEEKS;DATE OF LAST DOSE PRIOR TO EVENT: 9/SEP/2021/DATE OF LAST DOSE PRIOR TO EVENT:21-SEP
     Route: 065
     Dates: start: 20210308
  287. RITUXIMAB [Suspect]
     Active Substance: RITUXIMAB
     Indication: Follicular lymphoma
     Dosage: 750 MILLIGRAM
     Route: 065
     Dates: start: 20210308
  288. RITUXIMAB [Suspect]
     Active Substance: RITUXIMAB
     Indication: Follicular lymphoma
     Dosage: DOSEFORM:15,LAST DOSE PRIOR EVENT:9SEP21AND21SEP (CUMULATIVE DOSE TO FIRST REACTION: 166285.72 MG)
     Route: 065
     Dates: start: 20210308
  289. RITUXIMAB [Suspect]
     Active Substance: RITUXIMAB
     Indication: Follicular lymphoma
     Dosage: 300 MILLIGRAM, 1/WEEK; CUMULATIVE DOSE TO FIRST REACTION: 21726.785 MG
     Route: 065
     Dates: start: 20210705
  290. RITUXIMAB [Suspect]
     Active Substance: RITUXIMAB
     Indication: Follicular lymphoma
     Dosage: UNK/ CUMULATIVE DOSE: 53982.14 MG (ADDITIONAL INFORMATION:8/JUN/2020 AND 18/MAY/2020,25/JUN/2020 THE
     Route: 065
  291. RITUXIMAB [Suspect]
     Active Substance: RITUXIMAB
     Indication: Follicular lymphoma
     Dosage: 300 MILLIGRAM, 1/WEEK; CUMULATIVE DOSE TO FIRST REACTION: 16628.572 MG
     Route: 065
     Dates: start: 20210308
  292. RITUXIMAB [Suspect]
     Active Substance: RITUXIMAB
     Indication: Follicular lymphoma
     Dosage: 3000 MILLIGRAM, QW [, 4XW (CUMULATIVE DOSE TO FIRST REACTION: 3000.0 MG)]
     Route: 065
     Dates: start: 20210705
  293. RITUXIMAB [Suspect]
     Active Substance: RITUXIMAB
     Indication: Follicular lymphoma
     Dosage: 3000 MILLIGRAM, QWK
     Route: 065
     Dates: start: 20210308
  294. RITUXIMAB [Suspect]
     Active Substance: RITUXIMAB
     Indication: Follicular lymphoma
     Dosage: 750 MILLIGRAM, 4XW(750 MG 1Q4W (PHARMACEUTICAL DOSE FORM: 15))
     Route: 065
     Dates: start: 20210308
  295. RITUXIMAB [Suspect]
     Active Substance: RITUXIMAB
     Indication: Follicular lymphoma
     Dosage: 375 MG/M2, Q4WEEKS
     Route: 065
     Dates: start: 20210308
  296. RITUXIMAB [Suspect]
     Active Substance: RITUXIMAB
     Indication: Follicular lymphoma
     Dosage: 750 MILLIGRAM, Q4WEEKS (CUMULATIVE DOSE TO FIRST REACTION: 13579.241 MG)
     Route: 065
     Dates: start: 20210705
  297. RITUXIMAB [Suspect]
     Active Substance: RITUXIMAB
     Indication: Follicular lymphoma
     Dosage: 750 MILLIGRAM, DATE OF LAST DOSE PRIOR TO EVENT: 9/SEP/2021/DATE OF LAST DOSE PRIOR TO EVENT: 21-SEP
     Route: 065
     Dates: start: 20210308
  298. RITUXIMAB [Suspect]
     Active Substance: RITUXIMAB
     Indication: Follicular lymphoma
     Dosage: 750 MILLIGRAM, 4XW (CUMULATIVE DOSE TO FIRST REACTION: 53982.145 MG)
     Route: 065
     Dates: start: 20210308
  299. RITUXIMAB [Suspect]
     Active Substance: RITUXIMAB
     Indication: Follicular lymphoma
     Dosage: 750 MG
     Route: 065
     Dates: start: 20210705
  300. RITUXIMAB [Suspect]
     Active Substance: RITUXIMAB
     Indication: Follicular lymphoma
     Dosage: 750 MILLIGRAM, 1/WEEK
     Route: 065
     Dates: start: 20210705
  301. RITUXIMAB [Suspect]
     Active Substance: RITUXIMAB
     Indication: Follicular lymphoma
     Dosage: 750 MILLIGRAM, 4XW(DATE OF LAST DOSE PRIOR TO EVENT: 9/SEP/2021/ AND 21-SEP, ROA: IV DRIP)(CUMULATIV
     Route: 065
     Dates: start: 20210308
  302. RITUXIMAB [Suspect]
     Active Substance: RITUXIMAB
     Indication: Follicular lymphoma
     Dosage: 3000 MG, QW (750 MILLIGRAM, 4XW (DATE OF LAST DOSE PRIOR TO EVENT: 9/SEP/2021/ AND
     Route: 065
     Dates: start: 20210308
  303. RITUXIMAB [Suspect]
     Active Substance: RITUXIMAB
     Indication: Follicular lymphoma
     Dosage: 750 MG 1Q4W (PHARMACEUTICAL DOSE FORM: 15)
     Route: 065
     Dates: start: 20210308
  304. RITUXIMAB [Suspect]
     Active Substance: RITUXIMAB
     Indication: Follicular lymphoma
     Dosage: 750 MILLIGRAM, 4XW(750 MG 1Q4W (PHARMACEUTICAL DOSE FORM: 15)) (CUMULATIVE DOSE TO FIRST REACTION: 5
     Route: 065
     Dates: start: 20210308
  305. RITUXIMAB [Suspect]
     Active Substance: RITUXIMAB
     Indication: Follicular lymphoma
     Dosage: 750 MG 1Q4W (PHARMACEUTICAL DOSE FORM: 15)
     Route: 065
     Dates: start: 20210308
  306. RITUXIMAB [Suspect]
     Active Substance: RITUXIMAB
     Indication: Follicular lymphoma
     Dosage: 750 MILLIGRAM
     Route: 065
     Dates: start: 20210705
  307. RITUXIMAB [Suspect]
     Active Substance: RITUXIMAB
     Indication: Follicular lymphoma
     Dosage: 750 MILLIGRAM
     Route: 065
     Dates: start: 20210705
  308. RITUXIMAB [Suspect]
     Active Substance: RITUXIMAB
     Indication: Follicular lymphoma
     Dosage: 750 MILLIGRAM, Q4WEEKS (CUMULATIVE DOSE TO FIRST REACTION: 10392.857 MG)
     Route: 065
     Dates: start: 20210308
  309. RITUXIMAB [Suspect]
     Active Substance: RITUXIMAB
     Indication: Follicular lymphoma
     Dosage: 300 MILLIGRAM, 1/WEEK; CUMULATIVE DOSE TO FIRST REACTION: 3373.884 MG
     Route: 065
     Dates: start: 20210705
  310. RITUXIMAB [Suspect]
     Active Substance: RITUXIMAB
     Indication: Follicular lymphoma
     Dosage: 750MG,4XW(LAST DOSE:9SEP2021,21SEP,ROA:IVDRIP) (CUMULATIVE DOSE TO FIRST REACTION: 166285.72 MG)
     Route: 065
     Dates: start: 20210308
  311. RITUXIMAB [Suspect]
     Active Substance: RITUXIMAB
     Indication: Follicular lymphoma
     Dosage: 750 MILLIGRAM
     Route: 065
     Dates: start: 20210705
  312. KALIUMKLORID [Concomitant]
     Indication: Product used for unknown indication
     Route: 065
     Dates: start: 20210308
  313. LOSARTAN POTASSIUM [Concomitant]
     Active Substance: LOSARTAN POTASSIUM
     Indication: Product used for unknown indication
     Dosage: UNK
     Route: 065
     Dates: start: 20131122, end: 20210429
  314. ALBUTEROL [Concomitant]
     Active Substance: ALBUTEROL
     Indication: Product used for unknown indication
     Dosage: DOSAGE TEXT: UNK UNK, UNKNOWN FREQ.
     Route: 065
  315. ALBUTEROL [Concomitant]
     Active Substance: ALBUTEROL
     Indication: Product used for unknown indication
     Route: 065
     Dates: start: 20210708
  316. CLEMASTINE HYDROGEN FUMARATE [Concomitant]
     Indication: Product used for unknown indication
     Dosage: UNK
     Dates: start: 20210509
  317. UNIKALK FORTE [Concomitant]
     Indication: Product used for unknown indication
     Route: 065
     Dates: start: 20210504
  318. OMEPRAZOLE [Concomitant]
     Active Substance: OMEPRAZOLE
     Indication: Product used for unknown indication
     Dosage: UNK
  319. OMEPRAZOLE [Concomitant]
     Active Substance: OMEPRAZOLE
     Indication: Product used for unknown indication
     Route: 065
  320. OMEPRAZOLE [Concomitant]
     Active Substance: OMEPRAZOLE
     Indication: Product used for unknown indication
     Route: 065
     Dates: start: 20210719, end: 20210726
  321. BENDAMUSTINE [Suspect]
     Active Substance: BENDAMUSTINE
     Indication: Product used for unknown indication
     Dosage: 180 MILLIGRAM, QD
     Route: 065
     Dates: start: 20210706
  322. CLEMASTINE FUMARATE [Concomitant]
     Active Substance: CLEMASTINE FUMARATE
     Indication: Product used for unknown indication
     Route: 065
     Dates: start: 20210509
  323. DIHYDROCODEINE BITARTRATE [Suspect]
     Active Substance: DIHYDROCODEINE BITARTRATE
     Indication: Visual impairment
     Dosage: 1 DOSAGE FORMS DAILY;
     Route: 065
  324. DIHYDROCODEINE BITARTRATE [Suspect]
     Active Substance: DIHYDROCODEINE BITARTRATE
     Indication: Visual impairment
     Dosage: UNK
     Route: 065
  325. DIHYDROCODEINE BITARTRATE [Suspect]
     Active Substance: DIHYDROCODEINE BITARTRATE
     Indication: Visual impairment
     Dosage: 1 DOSAGE FORM, QD
     Route: 065
  326. FLUTICASONE FUROATE\VILANTEROL TRIFENATATE [Concomitant]
     Active Substance: FLUTICASONE FUROATE\VILANTEROL TRIFENATATE
     Indication: Product used for unknown indication
     Route: 065
  327. FLUTICASONE FUROATE\VILANTEROL TRIFENATATE [Concomitant]
     Active Substance: FLUTICASONE FUROATE\VILANTEROL TRIFENATATE
     Indication: Product used for unknown indication
     Route: 065
     Dates: start: 20210708
  328. PRAMIPEXOLE [Concomitant]
     Active Substance: PRAMIPEXOLE\PRAMIPEXOLE DIHYDROCHLORIDE
     Indication: Product used for unknown indication
     Dosage: UNK
     Dates: start: 20120823
  329. PRAMIPEXOLE [Concomitant]
     Active Substance: PRAMIPEXOLE\PRAMIPEXOLE DIHYDROCHLORIDE
     Indication: Product used for unknown indication
     Route: 065
  330. PRAMIPEXOLE [Concomitant]
     Active Substance: PRAMIPEXOLE\PRAMIPEXOLE DIHYDROCHLORIDE
     Indication: Product used for unknown indication
     Route: 065
     Dates: start: 20120823
  331. AMOXICILLIN TRIHYDRATE [Concomitant]
     Active Substance: AMOXICILLIN
     Indication: Product used for unknown indication
     Dosage: UNK
  332. AMOXICILLIN TRIHYDRATE [Concomitant]
     Active Substance: AMOXICILLIN
     Indication: Product used for unknown indication
  333. METOCLOPRAMIDE;ONDANSETRON [Concomitant]
     Indication: Pain
     Route: 065
     Dates: start: 20200214, end: 20200222
  334. METOCLOPRAMIDE;ONDANSETRON [Concomitant]
     Indication: Pain
     Route: 065
     Dates: start: 20210509
  335. VALGANCICLOVIR [Concomitant]
     Active Substance: VALGANCICLOVIR
     Indication: Prophylaxis
  336. VALGANCICLOVIR [Concomitant]
     Active Substance: VALGANCICLOVIR
     Indication: Prophylaxis
     Route: 065
  337. VALGANCICLOVIR [Concomitant]
     Active Substance: VALGANCICLOVIR
     Indication: Prophylaxis
     Route: 065
     Dates: end: 20211021
  338. CARBOPLATIN [Suspect]
     Active Substance: CARBOPLATIN
     Indication: Transitional cell carcinoma
     Dosage: 630 MILLIGRAM
     Route: 042
     Dates: start: 20200210
  339. CARBOPLATIN [Suspect]
     Active Substance: CARBOPLATIN
     Indication: Transitional cell carcinoma
     Dosage: UNK
     Route: 065
  340. CARBOPLATIN [Suspect]
     Active Substance: CARBOPLATIN
     Indication: Transitional cell carcinoma
     Route: 065
  341. CARBOPLATIN [Suspect]
     Active Substance: CARBOPLATIN
     Indication: Transitional cell carcinoma
     Dosage: UNK
     Route: 065
  342. CARBOPLATIN [Suspect]
     Active Substance: CARBOPLATIN
     Indication: Transitional cell carcinoma
     Dosage: 630 MILLIGRAM
     Route: 065
     Dates: start: 20210210
  343. CARBOPLATIN [Suspect]
     Active Substance: CARBOPLATIN
     Indication: Transitional cell carcinoma
     Dosage: 630 MG
     Route: 065
     Dates: start: 20200210
  344. CARBOPLATIN [Suspect]
     Active Substance: CARBOPLATIN
     Indication: Transitional cell carcinoma
     Dosage: UNK
     Route: 065
  345. CARBOPLATIN [Suspect]
     Active Substance: CARBOPLATIN
     Indication: Transitional cell carcinoma
     Dosage: UNK
     Route: 065
  346. CARBOPLATIN [Suspect]
     Active Substance: CARBOPLATIN
     Indication: Transitional cell carcinoma
     Dosage: 630 MILLIGRAM
     Route: 065
     Dates: start: 20210210
  347. VILANTEROL TRIFENATATE [Concomitant]
     Active Substance: VILANTEROL TRIFENATATE
     Indication: Product used for unknown indication
     Dosage: UNK
     Dates: start: 20210708
  348. VILANTEROL TRIFENATATE [Concomitant]
     Active Substance: VILANTEROL TRIFENATATE
     Indication: Product used for unknown indication
     Route: 065
     Dates: start: 20210708
  349. VILANTEROL TRIFENATATE [Concomitant]
     Active Substance: VILANTEROL TRIFENATATE
     Indication: Product used for unknown indication
     Dosage: UNK
  350. VILANTEROL TRIFENATATE [Concomitant]
     Active Substance: VILANTEROL TRIFENATATE
     Indication: Product used for unknown indication
     Dosage: UNK
     Dates: start: 20210708
  351. METHYLPREDNISOLONE [Concomitant]
     Active Substance: METHYLPREDNISOLONE
     Indication: Prophylaxis
     Dosage: 80 MG
     Route: 065
     Dates: start: 20210308, end: 20210308
  352. METHYLPREDNISOLONE [Concomitant]
     Active Substance: METHYLPREDNISOLONE
     Indication: Prophylaxis
     Dosage: UNK
     Dates: start: 20210406, end: 20210406
  353. METHYLPREDNISOLONE [Concomitant]
     Active Substance: METHYLPREDNISOLONE
     Indication: Prophylaxis
     Route: 065
     Dates: start: 20210308, end: 20210308
  354. METHYLPREDNISOLONE [Concomitant]
     Active Substance: METHYLPREDNISOLONE
     Indication: Prophylaxis
     Route: 065
     Dates: start: 20210308, end: 20220406
  355. METHYLPREDNISOLONE [Concomitant]
     Active Substance: METHYLPREDNISOLONE
     Indication: Prophylaxis
     Dosage: 80 MG
     Route: 065
     Dates: start: 20210406, end: 20210406
  356. METHYLPREDNISOLONE [Concomitant]
     Active Substance: METHYLPREDNISOLONE
     Indication: Prophylaxis
     Dosage: UNK
     Dates: start: 20210308, end: 20210406
  357. METHYLPREDNISOLONE [Concomitant]
     Active Substance: METHYLPREDNISOLONE
     Indication: Prophylaxis
     Route: 065
     Dates: start: 20220406, end: 20220406
  358. SODIUM BICARBONATE [Concomitant]
     Active Substance: SODIUM BICARBONATE
     Indication: Product used for unknown indication
     Dosage: UNK
     Dates: start: 20210712
  359. SODIUM BICARBONATE [Concomitant]
     Active Substance: SODIUM BICARBONATE
     Indication: Product used for unknown indication
     Route: 065
     Dates: start: 20210712
  360. SODIUM BICARBONATE [Concomitant]
     Active Substance: SODIUM BICARBONATE
     Indication: Product used for unknown indication
     Route: 065
     Dates: start: 20210712
  361. SODIUM BICARBONATE [Concomitant]
     Active Substance: SODIUM BICARBONATE
     Indication: Product used for unknown indication
     Route: 065
     Dates: start: 20210712
  362. ATEZOLIZUMAB [Suspect]
     Active Substance: ATEZOLIZUMAB
     Indication: Non-small cell lung cancer
     Dosage: 1200 MG, QW (SUBSEQUENTLY, DOSE ON 09 MAR 2020, 06 APR 2020 AND 27 APR 2020) (8 JUN
     Route: 065
     Dates: start: 20200210
  363. ATEZOLIZUMAB [Suspect]
     Active Substance: ATEZOLIZUMAB
     Indication: Non-small cell lung cancer
     Dosage: 3600 MG, QW/ CUMULATIVE DOSE TO FIRST REACTION: 342.857 MG
     Route: 065
     Dates: start: 20200518
  364. ATEZOLIZUMAB [Suspect]
     Active Substance: ATEZOLIZUMAB
     Indication: Non-small cell lung cancer
     Dosage: 2400 MG, QW (SUBSEQUENTLY, DOSE ON 09 MAR 2020, 06 APR 2020 AND 27 APR 2020; CUMULATIVE DOSE TO FIRS
     Route: 065
     Dates: start: 20200406
  365. ATEZOLIZUMAB [Suspect]
     Active Substance: ATEZOLIZUMAB
     Indication: Non-small cell lung cancer
     Dosage: UNK (8 JUN 2020 AND 18 MAY 2020,25 JUN 2020 THE PATIENT RECEIVED MOST RECENT DOSE OF ATEZOLIZUMAB(12
     Route: 065
  366. ATEZOLIZUMAB [Suspect]
     Active Substance: ATEZOLIZUMAB
     Indication: Non-small cell lung cancer
     Dosage: UNK (8 JUN 2020 AND 18 MAY 2020,25 JUN 2020 THE PATIENT RECEIVED MOST RECENT DOSE OF ATEZOLIZUMAB(12
     Route: 065
  367. ATEZOLIZUMAB [Suspect]
     Active Substance: ATEZOLIZUMAB
     Indication: Non-small cell lung cancer
     Dosage: TIME INTERVAL: 0.33333333 WEEKS: 1200 MG, Q3W (CUMULATIVE DOSE: 44683.332 MG)
     Route: 065
     Dates: start: 20200427, end: 20200427
  368. ATEZOLIZUMAB [Suspect]
     Active Substance: ATEZOLIZUMAB
     Indication: Non-small cell lung cancer
     Dosage: CUMULATIVE DOSE TO FIRST REACTION: 342.857 MG
     Route: 065
     Dates: start: 20200625
  369. ATEZOLIZUMAB [Suspect]
     Active Substance: ATEZOLIZUMAB
     Indication: Non-small cell lung cancer
     Dosage: 1200 MILLIGRAM, Q3WK, CUMULATIVE DOSE TO FIRST REACTION: 342.857 MG
     Route: 065
     Dates: start: 20200309
  370. ATEZOLIZUMAB [Suspect]
     Active Substance: ATEZOLIZUMAB
     Indication: Non-small cell lung cancer
     Dosage: 3600 MG, QW (CUMULATIVE DOSE TO FIRST REACTION: 2057.1428 MG;CUMULATIVE DOSE TO FIRST REACTION: 342.
     Route: 065
     Dates: start: 20200210
  371. ATEZOLIZUMAB [Suspect]
     Active Substance: ATEZOLIZUMAB
     Indication: Non-small cell lung cancer
     Dosage: TIME INTERVAL: 0.33333333 WEEKS: 1200 MG, Q3W
     Route: 065
     Dates: start: 20200406, end: 20200625
  372. ATEZOLIZUMAB [Suspect]
     Active Substance: ATEZOLIZUMAB
     Indication: Non-small cell lung cancer
     Dosage: 1200 MG, Q3WK (CUMULATIVE DOSE: 228.57143 MG)
     Route: 065
     Dates: start: 20200210
  373. ATEZOLIZUMAB [Suspect]
     Active Substance: ATEZOLIZUMAB
     Indication: Non-small cell lung cancer
     Dosage: 2400 MG, QW (CUMULATIVE DOSE TO FIRST REACTION: 685.7143 MG)
     Route: 065
     Dates: start: 20200406
  374. ATEZOLIZUMAB [Suspect]
     Active Substance: ATEZOLIZUMAB
     Indication: Non-small cell lung cancer
     Dosage: UNK CUMULATIVE DOSE: 342.857
     Route: 065
     Dates: start: 20200606
  375. ATEZOLIZUMAB [Suspect]
     Active Substance: ATEZOLIZUMAB
     Indication: Non-small cell lung cancer
     Dosage: UNK
     Route: 065
     Dates: start: 20200625
  376. ATEZOLIZUMAB [Suspect]
     Active Substance: ATEZOLIZUMAB
     Indication: Non-small cell lung cancer
     Dosage: 1200 MG, Q2W (CUMULATIVE DOSE TO FIRST REACTION: 44396.43 MG; SUBSEQUENTLY, DOSE ON 09
     Route: 065
     Dates: start: 20200210
  377. ATEZOLIZUMAB [Suspect]
     Active Substance: ATEZOLIZUMAB
     Indication: Non-small cell lung cancer
     Dosage: UNK (8 JUN 2020 AND 18 MAY 2020,25 JUN 2020 THE PATIENT RECEIVED MOST RECENT DOSE OF
     Route: 065
     Dates: start: 20200718
  378. ATEZOLIZUMAB [Suspect]
     Active Substance: ATEZOLIZUMAB
     Indication: Non-small cell lung cancer
     Dosage: UNK (CUMULATIVE DOSE- 2057.142 MILLIGRAMS; CUMULATIVE DOSE TO FIRST REACTION: 342.857 MG
     Route: 065
     Dates: start: 20200718
  379. ATEZOLIZUMAB [Suspect]
     Active Substance: ATEZOLIZUMAB
     Indication: Non-small cell lung cancer
     Dosage: UNK (CUMULATIVE DOSE- 2057.142 MILLIGRAMS)
     Route: 065
     Dates: start: 20200718
  380. ATEZOLIZUMAB [Suspect]
     Active Substance: ATEZOLIZUMAB
     Indication: Non-small cell lung cancer
     Dosage: 2400 MG, QW (SUBSEQUENTLY, DOSE ON 09 MAR 2020, 06 APR 2020 AND 27 APR 2020)
     Route: 065
     Dates: start: 20200406
  381. ATEZOLIZUMAB [Suspect]
     Active Substance: ATEZOLIZUMAB
     Indication: Non-small cell lung cancer
     Dosage: 1200 MG, Q3WK (CUMULATIVE DOSE: 4169.048 MG)
     Route: 065
     Dates: start: 20200427, end: 20200625
  382. ATEZOLIZUMAB [Suspect]
     Active Substance: ATEZOLIZUMAB
     Indication: Non-small cell lung cancer
     Dosage: UNK (CUMULATIVE DOSE- 2057.142 MILLIGRAM)
     Route: 065
     Dates: start: 20200625
  383. ATEZOLIZUMAB [Suspect]
     Active Substance: ATEZOLIZUMAB
     Indication: Non-small cell lung cancer
     Dosage: UNK, CUMULATIVE DOSE TO FIRST REACTION: 342.857 MG
     Route: 065
     Dates: start: 20200625
  384. ATEZOLIZUMAB [Suspect]
     Active Substance: ATEZOLIZUMAB
     Indication: Non-small cell lung cancer
     Dosage: 1200 MG, Q3WK (CUMULATIVE DOSE: 44683.332 MG)
     Route: 065
     Dates: start: 20220406
  385. ATEZOLIZUMAB [Suspect]
     Active Substance: ATEZOLIZUMAB
     Indication: Non-small cell lung cancer
     Dosage: 1200 MILLIGRAM, QWK (CUMULATIVE DOSE: 685.7143 MG)
     Route: 065
     Dates: start: 20200210
  386. ATEZOLIZUMAB [Suspect]
     Active Substance: ATEZOLIZUMAB
     Indication: Non-small cell lung cancer
     Dosage: 2400 MG, QW (CUMULATIVE DOSE TO FIRST REACTION: 685.7143 MG; CUMULATIVE DOSE TO FIRST REACTION: 342.
     Route: 065
  387. ATEZOLIZUMAB [Suspect]
     Active Substance: ATEZOLIZUMAB
     Indication: Non-small cell lung cancer
     Dosage: UNK (CUMULATIVE DOSE- 2057.142 MILLIGRAMS; CUMULATIVE DOSE TO FIRST REACTION: 342.857 MG
     Route: 065
  388. ATEZOLIZUMAB [Suspect]
     Active Substance: ATEZOLIZUMAB
     Indication: Non-small cell lung cancer
     Dosage: 1200 MG, QW (SUBSEQUENTLY, DOSE ON 09 MAR 2020, 06 APR 2020 AND 27 APR 2020) (8 JUN 2020 AND 18 MAY
     Route: 065
     Dates: start: 20200210
  389. ATEZOLIZUMAB [Suspect]
     Active Substance: ATEZOLIZUMAB
     Indication: Non-small cell lung cancer
     Dosage: 3600 MG, QW (CUMULATIVE DOSE TO FIRST REACTION: 2057.1428 MG; 3600 MILLIGRAM, QW; CUMULATIVE DOSE TO
     Route: 065
     Dates: start: 20200625
  390. ATEZOLIZUMAB [Suspect]
     Active Substance: ATEZOLIZUMAB
     Indication: Non-small cell lung cancer
     Dosage: UNK (CUMULATIVE DOSE- 2057.142 MILLIGRAMS; CUMULATIVE DOSE TO FIRST REACTION: 342.857 MG
     Route: 065
     Dates: start: 20200718
  391. ATEZOLIZUMAB [Suspect]
     Active Substance: ATEZOLIZUMAB
     Indication: Non-small cell lung cancer
     Dosage: 1200 MILLIGRAM, 0.33/WEEK INTERVAL (SUBSEQUENTLY, DOSE ON 09/MAR/2020, 06/APR/2020 AND 27/APR/2020,
     Route: 065
     Dates: start: 20200210
  392. ATEZOLIZUMAB [Suspect]
     Active Substance: ATEZOLIZUMAB
     Indication: Non-small cell lung cancer
     Dosage: TIME INTERVAL: 0.33333333 WEEKS: 1200 MG, Q3W (CUMULATIVE DOSE: 44683.332 MG)
     Route: 065
     Dates: start: 20220406
  393. ATEZOLIZUMAB [Suspect]
     Active Substance: ATEZOLIZUMAB
     Indication: Non-small cell lung cancer
     Dosage: TIME INTERVAL: 0.33333333 WEEKS: 1200 MG, Q3W (CUMULATIVE DOSE: 4169.048 MG)
     Route: 065
     Dates: start: 20200427, end: 20200625
  394. ATEZOLIZUMAB [Suspect]
     Active Substance: ATEZOLIZUMAB
     Indication: Non-small cell lung cancer
     Dosage: 1200 MG, QW (SUBSEQUENTLY, DOSE ON 09/MAR/2020, 06/APR/2020 AND 27/APR/2020, 08/JUN/2020 AND 18/MAY/
     Route: 065
     Dates: start: 20200210
  395. ATEZOLIZUMAB [Suspect]
     Active Substance: ATEZOLIZUMAB
     Indication: Non-small cell lung cancer
     Dosage: 1200 MG, Q3WK (CUMULATIVE DOSE: 342.857 MG)
     Route: 065
     Dates: start: 20200406
  396. ATEZOLIZUMAB [Suspect]
     Active Substance: ATEZOLIZUMAB
     Indication: Non-small cell lung cancer
     Dosage: 1200 MILLIGRAM, Q3WK
     Route: 065
     Dates: end: 20200406
  397. ATEZOLIZUMAB [Suspect]
     Active Substance: ATEZOLIZUMAB
     Indication: Non-small cell lung cancer
     Dosage: UNK (CUMULATIVE DOSE- 2057.142 MILLIGRAM)
     Route: 065
     Dates: start: 20200606
  398. ATEZOLIZUMAB [Suspect]
     Active Substance: ATEZOLIZUMAB
     Indication: Non-small cell lung cancer
     Dosage: 1200 MG (SUBSEQUENTLY, DOSE ON 09/MAR/2020, 06/APR/2020 AND 27/APR/2020, 08/JUN/2020 AND 18/MAY/2020
     Route: 065
     Dates: start: 20200606
  399. ATEZOLIZUMAB [Suspect]
     Active Substance: ATEZOLIZUMAB
     Indication: Non-small cell lung cancer
     Dosage: UNK (CUMULATIVE DOSE- 2057.142 MILLIGRAMS; CUMULATIVE DOSE TO FIRST REACTION: 342.857 MG
     Route: 065
     Dates: start: 20200606
  400. ATEZOLIZUMAB [Suspect]
     Active Substance: ATEZOLIZUMAB
     Indication: Non-small cell lung cancer
     Dosage: 3600 MG, QW (CUMULATIVE DOSE TO FIRST REACTION: 2057.1428 MG; 3600 MILLIGRAM, QW)
     Route: 065
     Dates: start: 20200625
  401. ATEZOLIZUMAB [Suspect]
     Active Substance: ATEZOLIZUMAB
     Indication: Non-small cell lung cancer
     Dosage: 3600 MG, QW (1200 MILLIGRAM, Q3WK)
     Route: 065
     Dates: start: 20200309
  402. ATEZOLIZUMAB [Suspect]
     Active Substance: ATEZOLIZUMAB
     Indication: Non-small cell lung cancer
     Dosage: 3600 MG, QW (SUBSEQUENTLY, DOSE ON 09 MAR 2020, 06 APR 2020 AND 27 APR 2020, 08 JUN
     Route: 065
     Dates: start: 20200210
  403. ATEZOLIZUMAB [Suspect]
     Active Substance: ATEZOLIZUMAB
     Indication: Non-small cell lung cancer
     Dosage: 1200 MILLIGRAM, QWK
     Route: 065
     Dates: start: 20200210
  404. ATEZOLIZUMAB [Suspect]
     Active Substance: ATEZOLIZUMAB
     Indication: Non-small cell lung cancer
     Dosage: UNK, CUMULATIVE DOSE TO FIRST REACTION: 342.857 MG
     Route: 065
     Dates: start: 20200518
  405. ATEZOLIZUMAB [Suspect]
     Active Substance: ATEZOLIZUMAB
     Indication: Non-small cell lung cancer
     Dosage: 1200 MG, Q3W
     Route: 065
     Dates: start: 20200427, end: 20200625
  406. ATEZOLIZUMAB [Suspect]
     Active Substance: ATEZOLIZUMAB
     Indication: Non-small cell lung cancer
     Dosage: TIME INTERVAL: 0.33333333 WEEKS: 1200 MG, Q3W (CUMULATIVE DOSE TO FIRST REACTION: 342.85715 MG)
     Route: 065
     Dates: start: 20200210
  407. ATEZOLIZUMAB [Suspect]
     Active Substance: ATEZOLIZUMAB
     Indication: Non-small cell lung cancer
     Dosage: 3600 MG, QW
     Route: 065
     Dates: start: 20200518
  408. ATEZOLIZUMAB [Suspect]
     Active Substance: ATEZOLIZUMAB
     Indication: Non-small cell lung cancer
     Dosage: 1200 MILLIGRAM, Q3WK
     Route: 065
     Dates: end: 20200309
  409. PIPERACILLIN AND TAZOBACTAM [Concomitant]
     Active Substance: PIPERACILLIN SODIUM\TAZOBACTAM SODIUM
     Indication: Prophylaxis
     Route: 065
     Dates: end: 20210714
  410. POLYETHYLENE GLYCOL 3350 [Concomitant]
     Active Substance: POLYETHYLENE GLYCOL 3350
     Indication: Product used for unknown indication
     Dosage: UNK
     Dates: start: 20210712
  411. POLYETHYLENE GLYCOL 3350 [Concomitant]
     Active Substance: POLYETHYLENE GLYCOL 3350
     Indication: Product used for unknown indication
     Route: 065
     Dates: start: 20210712
  412. POLYETHYLENE GLYCOL 3350 [Concomitant]
     Active Substance: POLYETHYLENE GLYCOL 3350
     Indication: Product used for unknown indication
     Route: 065
     Dates: start: 20210712
  413. POLYETHYLENE GLYCOL 3350 [Concomitant]
     Active Substance: POLYETHYLENE GLYCOL 3350
     Indication: Product used for unknown indication
     Route: 065
     Dates: start: 20210712
  414. TOCILIZUMAB [Concomitant]
     Active Substance: TOCILIZUMAB
     Indication: Product used for unknown indication
     Dosage: UNK
     Dates: start: 20210427, end: 20210427
  415. AMOXICILLIN\CLAVULANIC ACID [Concomitant]
     Active Substance: AMOXICILLIN\CLAVULANIC ACID
     Indication: Prophylaxis
     Route: 065
     Dates: end: 20210715
  416. AMOXICILLIN\CLAVULANIC ACID [Concomitant]
     Active Substance: AMOXICILLIN\CLAVULANIC ACID
     Indication: Prophylaxis
     Route: 065
     Dates: start: 20210714, end: 20210715
  417. AMOXICILLIN\CLAVULANATE POTASSIUM [Concomitant]
     Active Substance: AMOXICILLIN\CLAVULANATE POTASSIUM
     Indication: Prophylaxis
     Dosage: UNK
  418. AMOXICILLIN\CLAVULANATE POTASSIUM [Concomitant]
     Active Substance: AMOXICILLIN\CLAVULANATE POTASSIUM
     Indication: Prophylaxis
     Route: 065
     Dates: end: 20210715
  419. AMOXICILLIN\CLAVULANATE POTASSIUM [Concomitant]
     Active Substance: AMOXICILLIN\CLAVULANATE POTASSIUM
     Indication: Prophylaxis
  420. AMOXICILLIN\CLAVULANATE POTASSIUM [Concomitant]
     Active Substance: AMOXICILLIN\CLAVULANATE POTASSIUM
     Indication: Prophylaxis
     Route: 065
     Dates: start: 20210714, end: 20210715
  421. AMOXICILLIN\CLAVULANATE POTASSIUM [Concomitant]
     Active Substance: AMOXICILLIN\CLAVULANATE POTASSIUM
     Indication: Prophylaxis
     Route: 065
     Dates: start: 20210714, end: 20210715
  422. TAZOBACTAM SODIUM [Concomitant]
     Active Substance: TAZOBACTAM SODIUM
     Indication: Prophylaxis
     Dosage: UNK
     Dates: start: 20210308
  423. TAZOBACTAM SODIUM [Concomitant]
     Active Substance: TAZOBACTAM SODIUM
     Indication: Prophylaxis
     Route: 065
     Dates: start: 20210308
  424. TAZOBACTAM SODIUM [Concomitant]
     Active Substance: TAZOBACTAM SODIUM
     Indication: Prophylaxis
     Dosage: UNK
     Dates: start: 20210713, end: 20210714
  425. TAZOBACTAM SODIUM [Concomitant]
     Active Substance: TAZOBACTAM SODIUM
     Indication: Prophylaxis
     Route: 065
     Dates: start: 20210713, end: 20210714
  426. ATEZOLIZUMAB [Suspect]
     Active Substance: ATEZOLIZUMAB
     Indication: Transitional cell carcinoma
     Dosage: 1200 MG Q3WK, (CUMULATIVE DOSE: 44683.332 MG)
     Route: 065
     Dates: start: 20220406
  427. ATEZOLIZUMAB [Suspect]
     Active Substance: ATEZOLIZUMAB
     Indication: Transitional cell carcinoma
     Dosage: 1200 MG EVERY 0.3 WEEK SUBSEQUENTLY, DOSE ON 09/MAR/2020, 06/APR/2020 AND 27/APR/2020, 08/JUN/2020 A
     Route: 065
     Dates: start: 20200210, end: 20200210
  428. ATEZOLIZUMAB [Suspect]
     Active Substance: ATEZOLIZUMAB
     Indication: Transitional cell carcinoma
     Dosage: UNK
     Route: 065
     Dates: start: 20200625
  429. ATEZOLIZUMAB [Suspect]
     Active Substance: ATEZOLIZUMAB
     Indication: Transitional cell carcinoma
     Dosage: 1200 MILLIGRAM, Q2WK(CUMULATIVE DOSE TO FIRST REACTION: 342.85715 MG)
     Route: 065
     Dates: start: 20200210
  430. ATEZOLIZUMAB [Suspect]
     Active Substance: ATEZOLIZUMAB
     Indication: Transitional cell carcinoma
     Dosage: UNK
     Route: 065
     Dates: start: 20200606
  431. ATEZOLIZUMAB [Suspect]
     Active Substance: ATEZOLIZUMAB
     Indication: Transitional cell carcinoma
     Dosage: 3600 MILLIGRAM, QWK; CUMULATIVE DOSE TO FIRST REACTION: 2057.1428 MG
     Route: 065
     Dates: start: 20200210
  432. ATEZOLIZUMAB [Suspect]
     Active Substance: ATEZOLIZUMAB
     Indication: Transitional cell carcinoma
     Dosage: CUMULATIVE DOSE TO FIRST REACTION: 2057.1428 MG; 3600 MILLIGRAM, QW
     Route: 065
  433. ATEZOLIZUMAB [Suspect]
     Active Substance: ATEZOLIZUMAB
     Indication: Transitional cell carcinoma
     Dosage: 1200 MG Q3WK, (CUMULATIVE DOSE: 4169.048 MG)
     Route: 065
     Dates: start: 20200427, end: 20200625
  434. ATEZOLIZUMAB [Suspect]
     Active Substance: ATEZOLIZUMAB
     Indication: Transitional cell carcinoma
     Dosage: SUBSEQUENTLY, DOSE ON 09/MAR/2020, 06/APR/2020 AND 27/APR/2020
     Route: 065
     Dates: start: 20200210
  435. ATEZOLIZUMAB [Suspect]
     Active Substance: ATEZOLIZUMAB
     Indication: Transitional cell carcinoma
     Dosage: 1200 MILLIGRAM, QWK (CUMULATIVE DOSE TO FIRST REACTION: 685.7143 MG)
     Route: 065
     Dates: start: 20200210
  436. ATEZOLIZUMAB [Suspect]
     Active Substance: ATEZOLIZUMAB
     Indication: Transitional cell carcinoma
     Dosage: 1200 MILLIGRAM, Q3WK
     Route: 065
     Dates: start: 20200309, end: 20200625
  437. ATEZOLIZUMAB [Suspect]
     Active Substance: ATEZOLIZUMAB
     Indication: Transitional cell carcinoma
     Dosage: 1200 MG, EVERY 2 WEEK (CUMULATIVE DOSE TO FIRST REACTION: 44396.43 MG; SUBSEQUENTLY, DOSE ON 09/MAR/
     Route: 065
     Dates: start: 20200210
  438. ATEZOLIZUMAB [Suspect]
     Active Substance: ATEZOLIZUMAB
     Indication: Transitional cell carcinoma
     Dosage: 1200 MILLIGRAM, Q2WK; 1200 MILLIGRAM, Q2WK; CUMULATIVE DOSE TO FIRST REACTION: 342.85715 MG
     Route: 065
  439. ATEZOLIZUMAB [Suspect]
     Active Substance: ATEZOLIZUMAB
     Indication: Transitional cell carcinoma
     Dosage: 1200 MILLIGRAM, Q3WK (CUMULATIVE DOSE TO FIRST REACTION: 685.7143 MG)
     Route: 065
     Dates: start: 20200210
  440. ATEZOLIZUMAB [Suspect]
     Active Substance: ATEZOLIZUMAB
     Indication: Transitional cell carcinoma
     Dosage: 1200 MILLIGRAM, Q3WK (CUMULATIVE DOSE TO FIRST REACTION: 342.85715 MG)
     Route: 065
     Dates: start: 20200210
  441. ATEZOLIZUMAB [Suspect]
     Active Substance: ATEZOLIZUMAB
     Indication: Transitional cell carcinoma
     Dosage: 1200 MILLIGRAM, QWK, (CUMULATIVE DOSE: 685.7143 MG)
     Route: 065
     Dates: start: 20200210
  442. ATEZOLIZUMAB [Suspect]
     Active Substance: ATEZOLIZUMAB
     Indication: Transitional cell carcinoma
     Dosage: 1200 MILLIGRAM, Q3WK
     Route: 065
     Dates: start: 20220406
  443. ATEZOLIZUMAB [Suspect]
     Active Substance: ATEZOLIZUMAB
     Indication: Transitional cell carcinoma
     Dosage: CUMULATIVE DOSE TO FIRST REACTION: 2057.1428 MG; SUBSEQUENTLY, DOSE ON 09/MAR/2020, 06/APR/2020 AND
     Route: 065
  444. ATEZOLIZUMAB [Suspect]
     Active Substance: ATEZOLIZUMAB
     Indication: Transitional cell carcinoma
     Dosage: SUBSEQUENTLY, DOSE ON 09/MAR/2020, 06/APR/2020 AND 27/APR/2020
     Route: 065
     Dates: start: 20200210
  445. ATEZOLIZUMAB [Suspect]
     Active Substance: ATEZOLIZUMAB
     Indication: Transitional cell carcinoma
     Dosage: 1200 MILLIGRAM, Q3WK (CUMULATIVE DOSE TO FIRST REACTION: 228.57143 MG)
     Route: 065
     Dates: start: 20200210
  446. ATEZOLIZUMAB [Suspect]
     Active Substance: ATEZOLIZUMAB
     Indication: Transitional cell carcinoma
     Dosage: 1200 MILLIGRAM, QWK
     Route: 065
     Dates: start: 20200210
  447. ATEZOLIZUMAB [Suspect]
     Active Substance: ATEZOLIZUMAB
     Indication: Transitional cell carcinoma
     Dosage: UNK
     Route: 065
     Dates: start: 20200718
  448. ATEZOLIZUMAB [Suspect]
     Active Substance: ATEZOLIZUMAB
     Indication: Transitional cell carcinoma
     Dosage: SUBSEQUENTLY, DOSE ON 09/MAR/2020, 06/APR/2020 AND 27/APR/2020, 08/JUN/2020 AND 18/MAY/2020, 25/JUN
     Route: 065
     Dates: start: 20200210, end: 20200210
  449. ATEZOLIZUMAB [Suspect]
     Active Substance: ATEZOLIZUMAB
     Indication: Transitional cell carcinoma
     Dosage: UNK
     Route: 065
     Dates: start: 20200518
  450. ATEZOLIZUMAB [Suspect]
     Active Substance: ATEZOLIZUMAB
     Indication: Transitional cell carcinoma
     Dosage: 1200 MG, EVERY 1 WEEK (CUMULATIVE DOSE TO FIRST REACTION: 88792.86 MG; SUBSEQUENTLY, DOSE ON 09/MAR/
     Route: 065
     Dates: start: 20200210
  451. ATEZOLIZUMAB [Suspect]
     Active Substance: ATEZOLIZUMAB
     Indication: Transitional cell carcinoma
     Dosage: 1200 MILLIGRAM, 2/WEEK; CUMULATIVE DOSE TO FIRST REACTION: 685.7143 MG
     Route: 065
  452. ATEZOLIZUMAB [Suspect]
     Active Substance: ATEZOLIZUMAB
     Indication: Transitional cell carcinoma
     Dosage: 2400 MG, 1/WEEK, SUBSEQUENTLY, DOSE ON 09/MAR/2020, 06/APR/2020 AND 27/APR/2020
     Route: 065
     Dates: start: 20200210
  453. CLEMASTINE [Concomitant]
     Active Substance: CLEMASTINE
     Indication: Product used for unknown indication
     Route: 065
     Dates: start: 20210509
  454. BENDAMUSTINE HYDROCHLORIDE MONOHYDRATE [Suspect]
     Active Substance: BENDAMUSTINE HYDROCHLORIDE MONOHYDRATE
     Indication: Follicular lymphoma
     Dosage: 180 MILLIGRAM, QD (180 MG EVERY DAY (PHARMACEUTICAL DOSE FORM: 15)
     Route: 065
     Dates: start: 20210308
  455. BENDAMUSTINE HYDROCHLORIDE MONOHYDRATE [Suspect]
     Active Substance: BENDAMUSTINE HYDROCHLORIDE MONOHYDRATE
     Indication: Follicular lymphoma
     Dosage: 180 MILLIGRAM
     Route: 065
     Dates: start: 20210706
  456. BENDAMUSTINE HYDROCHLORIDE MONOHYDRATE [Suspect]
     Active Substance: BENDAMUSTINE HYDROCHLORIDE MONOHYDRATE
     Indication: Follicular lymphoma
     Dosage: UNK
     Route: 065
  457. BENDAMUSTINE HYDROCHLORIDE MONOHYDRATE [Suspect]
     Active Substance: BENDAMUSTINE HYDROCHLORIDE MONOHYDRATE
     Indication: Follicular lymphoma
     Dosage: 180 MILLIGRAM, QD (CUMULATIVE DOSE TO FIRST REACTION: 22672.5 MG; 180 MG EVERY DAY (PHARMACEUTICAL D
     Route: 065
     Dates: start: 20210308
  458. BENDAMUSTINE HYDROCHLORIDE MONOHYDRATE [Suspect]
     Active Substance: BENDAMUSTINE HYDROCHLORIDE MONOHYDRATE
     Indication: Follicular lymphoma
     Dosage: 180 MILLIGRAM, QD (CUMULATIVE DOSE TO FIRST REACTION: 22672.5 MG; 180 MG EVERY DAY (PHARMACEUTICAL D
     Route: 065
     Dates: start: 20210308
  459. BENDAMUSTINE HYDROCHLORIDE MONOHYDRATE [Suspect]
     Active Substance: BENDAMUSTINE HYDROCHLORIDE MONOHYDRATE
     Indication: Follicular lymphoma
     Dosage: 180 MILLIGRAM, QD (180 MG EVERY DAY (PHARMACEUTICAL DOSE FORM: 15)
     Route: 065
     Dates: start: 20210308
  460. VILANTEROL [Concomitant]
     Active Substance: VILANTEROL
     Indication: Product used for unknown indication
     Route: 065
     Dates: start: 20210708
  461. VILANTEROL [Concomitant]
     Active Substance: VILANTEROL
     Indication: Product used for unknown indication
     Route: 065
     Dates: start: 20210708
  462. NASONEX [Concomitant]
     Active Substance: MOMETASONE FUROATE
     Indication: Product used for unknown indication
     Dosage: UNK
     Dates: start: 20210415, end: 20210509
  463. DIHYDROCODEINE BITARTRATE [Suspect]
     Active Substance: DIHYDROCODEINE BITARTRATE
     Indication: Visual impairment
     Route: 065
  464. DIHYDROCODEINE BITARTRATE [Suspect]
     Active Substance: DIHYDROCODEINE BITARTRATE
     Indication: Visual impairment
     Route: 065
  465. PIPERACILLIN SODIUM [Concomitant]
     Active Substance: PIPERACILLIN SODIUM
     Indication: Prophylaxis
     Dosage: UNK
     Dates: start: 20210713, end: 20210714
  466. PIPERACILLIN SODIUM [Concomitant]
     Active Substance: PIPERACILLIN SODIUM
     Indication: Prophylaxis
     Route: 065
     Dates: end: 20210714
  467. PIPERACILLIN SODIUM [Concomitant]
     Active Substance: PIPERACILLIN SODIUM
     Indication: Prophylaxis
     Route: 065
     Dates: start: 20210713, end: 20210714
  468. AMOXICILLIN [Concomitant]
     Active Substance: AMOXICILLIN
     Indication: Prophylaxis
  469. AMOXICILLIN [Concomitant]
     Active Substance: AMOXICILLIN
     Indication: Prophylaxis
     Route: 065
     Dates: end: 20210715
  470. SODIUM BICARBONATE [Concomitant]
     Active Substance: SODIUM BICARBONATE
     Indication: Product used for unknown indication
     Dosage: UNK
     Dates: start: 20210712
  471. CALCIUM\CHOLECALCIFEROL [Concomitant]
     Active Substance: CALCIUM\CHOLECALCIFEROL
     Indication: Product used for unknown indication
     Route: 065
     Dates: start: 20210504
  472. CALCIUM\CHOLECALCIFEROL [Concomitant]
     Active Substance: CALCIUM\CHOLECALCIFEROL
     Indication: Product used for unknown indication
     Route: 065
     Dates: start: 20210504
  473. DIHYDROCODEINE BITARTRATE [Suspect]
     Active Substance: DIHYDROCODEINE BITARTRATE
     Indication: Visual impairment
     Dosage: 1 DOSAGE FORM, QD
     Route: 065
  474. DIHYDROCODEINE BITARTRATE [Suspect]
     Active Substance: DIHYDROCODEINE BITARTRATE
     Indication: Visual impairment
     Dosage: UNK
     Route: 065
  475. SOLU-MEDROL [Concomitant]
     Active Substance: METHYLPREDNISOLONE SODIUM SUCCINATE
     Indication: Product used for unknown indication
     Route: 065
     Dates: start: 20210308, end: 20210406
  476. MICONAZOLE [Concomitant]
     Active Substance: MICONAZOLE
     Indication: Product used for unknown indication
     Dosage: UNK
     Dates: start: 20210715, end: 20211004
  477. MICONAZOLE [Concomitant]
     Active Substance: MICONAZOLE
     Indication: Product used for unknown indication
     Route: 065
     Dates: end: 20211014
  478. MICONAZOLE [Concomitant]
     Active Substance: MICONAZOLE
     Indication: Product used for unknown indication
     Dosage: UNK
     Dates: start: 20210715
  479. MICONAZOLE [Concomitant]
     Active Substance: MICONAZOLE
     Indication: Product used for unknown indication
     Route: 065
     Dates: start: 20210715, end: 20211014
  480. MICONAZOLE [Concomitant]
     Active Substance: MICONAZOLE
     Indication: Product used for unknown indication
     Route: 065
     Dates: start: 20210715, end: 20211014
  481. MICONAZOLE [Concomitant]
     Active Substance: MICONAZOLE
     Indication: Product used for unknown indication
     Route: 065
     Dates: start: 20210715, end: 20211014
  482. CLAVULANIC ACID [Concomitant]
     Active Substance: CLAVULANIC ACID
     Indication: Prophylaxis
     Dosage: UNK
     Dates: start: 20210509
  483. CLAVULANIC ACID [Concomitant]
     Active Substance: CLAVULANIC ACID
     Indication: Prophylaxis
     Route: 065
     Dates: end: 20210715
  484. CLAVULANIC ACID [Concomitant]
     Active Substance: CLAVULANIC ACID
     Indication: Prophylaxis
     Dosage: UNK
     Dates: start: 20210714, end: 20210715
  485. METHYLPREDNISOLONE SODIUM SUCCINATE [Concomitant]
     Active Substance: METHYLPREDNISOLONE SODIUM SUCCINATE
     Indication: Product used for unknown indication
     Dosage: UNK
     Dates: start: 20210308, end: 20210406
  486. FLUTICASONE [Concomitant]
     Active Substance: FLUTICASONE
     Indication: Product used for unknown indication
     Route: 065
     Dates: start: 20210708
  487. FUROSEMIDE [Concomitant]
     Active Substance: FUROSEMIDE
     Indication: Product used for unknown indication
     Dosage: UNK
     Dates: start: 20210308
  488. FUROSEMIDE [Concomitant]
     Active Substance: FUROSEMIDE
     Indication: Product used for unknown indication
     Route: 065
     Dates: start: 20210308
  489. SODIUM CHLORIDE [Concomitant]
     Active Substance: SODIUM CHLORIDE
     Indication: Product used for unknown indication
     Dosage: UNK
     Dates: start: 20210712
  490. SODIUM CHLORIDE [Concomitant]
     Active Substance: SODIUM CHLORIDE
     Indication: Product used for unknown indication
     Route: 065
     Dates: start: 20210712
  491. METOCLOPRAMIDE HYDROCHLORIDE [Concomitant]
     Active Substance: METOCLOPRAMIDE HYDROCHLORIDE
     Indication: Product used for unknown indication
  492. ACICLODAN [Concomitant]
     Indication: Product used for unknown indication
     Route: 065
     Dates: start: 20200402, end: 20200404
  493. ACICLODAN [Concomitant]
     Indication: Product used for unknown indication
     Route: 065
  494. EPCORITAMAB [Suspect]
     Active Substance: EPCORITAMAB
     Indication: Follicular lymphoma
     Dosage: DOSAGE TEXT:  (PRIMING DOSE, SINGLE)
     Route: 058
     Dates: start: 20210308, end: 20210308
  495. EPCORITAMAB [Suspect]
     Active Substance: EPCORITAMAB
     Indication: Follicular lymphoma
     Dosage: DOSAGE TEXT:  (FULL DOSE, CYCLE 1-3)
     Route: 058
     Dates: start: 20210322, end: 20210527
  496. EPCORITAMAB [Suspect]
     Active Substance: EPCORITAMAB
     Indication: Follicular lymphoma
     Dosage: 0.8 MILLIGRAM, DAILY, INTERMEDIATE DOSE, SINGLE (CUMULATIVE DOSE TO FIRST REACTION: 316.0 MG)
     Route: 065
     Dates: start: 20210315, end: 20210315
  497. EPCORITAMAB [Suspect]
     Active Substance: EPCORITAMAB
     Indication: Follicular lymphoma
     Dosage: DOSAGE TEXT:  (INTERMEDIATE DOSE,SINGLE)
     Route: 058
     Dates: start: 20210315, end: 20210315
  498. EPCORITAMAB [Suspect]
     Active Substance: EPCORITAMAB
     Indication: Follicular lymphoma
     Dosage: 24 MILLIGRAM, EVERY 1 WEEK, FULL DOSE, CYCLE 1-3 (CUMULATIVE DOSE TO FIRST REACTION: 1378.2858 MG)
     Route: 065
     Dates: start: 20210322, end: 20210527
  499. EPCORITAMAB [Suspect]
     Active Substance: EPCORITAMAB
     Indication: Follicular lymphoma
     Dosage: DOSAGE TEXT: (FULL DOSE, CYCLE 1-3)
     Route: 058
     Dates: start: 20210322, end: 20210527
  500. EPCORITAMAB [Suspect]
     Active Substance: EPCORITAMAB
     Indication: Follicular lymphoma
     Dosage: DOSAGE TEXT: (FULL DOSE, CYCLE 1-3)
     Route: 058
     Dates: start: 20210322, end: 20210527
  501. EPCORITAMAB [Suspect]
     Active Substance: EPCORITAMAB
     Indication: Follicular lymphoma
     Dosage: DOSAGE TEXT:  (FULL DOSE, CYCLE 4-9)
     Route: 058
     Dates: start: 20210607, end: 20210719
  502. EPCORITAMAB [Suspect]
     Active Substance: EPCORITAMAB
     Indication: Follicular lymphoma
     Dosage: DOSAGE TEXT:  (FULL DOSE, CYCLE 4-9)
     Route: 058
     Dates: start: 20210607
  503. EPCORITAMAB [Suspect]
     Active Substance: EPCORITAMAB
     Indication: Follicular lymphoma
     Dosage: DOSAGE TEXT:  (10TH DOSE)
     Route: 058
     Dates: start: 20210322
  504. EPCORITAMAB [Suspect]
     Active Substance: EPCORITAMAB
     Indication: Follicular lymphoma
     Dosage: 24 MILLIGRAM, Q2WEEKS, FULL DOSE, CYCLE 4-9
     Route: 058
     Dates: start: 20210719
  505. EPCORITAMAB [Suspect]
     Active Substance: EPCORITAMAB
     Indication: Follicular lymphoma
     Dosage: 0.8 MILLIGRAM, QD
     Route: 058
     Dates: start: 20210315, end: 20210315
  506. EPCORITAMAB [Suspect]
     Active Substance: EPCORITAMAB
     Indication: Follicular lymphoma
     Dosage: 0.8 MILLIGRAM, DAILY,
     Route: 065
     Dates: start: 20210315, end: 20210315
  507. EPCORITAMAB [Suspect]
     Active Substance: EPCORITAMAB
     Indication: Follicular lymphoma
     Dosage: 24 MILLIGRAM, BIWEEKLY
     Route: 065
     Dates: start: 20210607
  508. EPCORITAMAB [Suspect]
     Active Substance: EPCORITAMAB
     Indication: Follicular lymphoma
     Dosage: UNK
     Route: 065
  509. EPCORITAMAB [Suspect]
     Active Substance: EPCORITAMAB
     Indication: Follicular lymphoma
     Dosage: 0.16 MILLIGRAM, QD
     Route: 065
     Dates: start: 20210308
  510. EPCORITAMAB [Suspect]
     Active Substance: EPCORITAMAB
     Indication: Follicular lymphoma
     Dosage: (CUMULATIVE DOSE TO FIRST REACTION: 0.96 MG)
     Route: 065
  511. EPCORITAMAB [Suspect]
     Active Substance: EPCORITAMAB
     Indication: Follicular lymphoma
     Dosage: 0.16 MILLIGRAM, QD(0.16 MILLIGRAM, DAILY, PRIMING DOSE, SINGLE)
     Route: 065
     Dates: start: 20210308, end: 20210308
  512. EPCORITAMAB [Suspect]
     Active Substance: EPCORITAMAB
     Indication: Follicular lymphoma
     Dosage: 0.8 MILLIGRAM, QD  (CUMULATIVE DOSE: 316.0 MG)
     Route: 065
     Dates: start: 20210315, end: 20210315
  513. EPCORITAMAB [Suspect]
     Active Substance: EPCORITAMAB
     Indication: Follicular lymphoma
     Dosage: 0.8 MILLIGRAM, DAILY, INTERMEDIATE DOSE, SINGLE
     Route: 065
     Dates: start: 20210315, end: 20210315
  514. EPCORITAMAB [Suspect]
     Active Substance: EPCORITAMAB
     Indication: Follicular lymphoma
     Dosage: 0.8 MILLIGRAM, DAILY
     Route: 065
     Dates: start: 20210315, end: 20210315
  515. EPCORITAMAB [Suspect]
     Active Substance: EPCORITAMAB
     Indication: Follicular lymphoma
     Dosage: 0.16 MILLIGRAM, DAILY, PRIMING DOSE, SINGLE
     Route: 065
     Dates: start: 20210308, end: 20210308
  516. EPCORITAMAB [Suspect]
     Active Substance: EPCORITAMAB
     Indication: Follicular lymphoma
     Dosage: 0.8 MILLIGRAM, DAILY, INTERMEDIATE DOSE, SINGLE
     Route: 065
  517. EPCORITAMAB [Suspect]
     Active Substance: EPCORITAMAB
     Indication: Follicular lymphoma
     Dosage: 24 MILLIGRAM, QWK
     Route: 065
     Dates: start: 20210322
  518. EPCORITAMAB [Suspect]
     Active Substance: EPCORITAMAB
     Indication: Follicular lymphoma
     Dosage: 0.8 MILLIGRAM, QD (CUMULATIVE DOSE TO FIRST REACTION: 316.0 MG)
     Route: 065
     Dates: start: 20210315, end: 20210315
  519. EPCORITAMAB [Suspect]
     Active Substance: EPCORITAMAB
     Indication: Follicular lymphoma
     Dosage: 24 MILLIGRAM, BIWEEKLY
     Route: 065
     Dates: start: 20210607
  520. EPCORITAMAB [Suspect]
     Active Substance: EPCORITAMAB
     Indication: Follicular lymphoma
     Dosage: 0.16 MILLIGRAM, DAILY, PRIMING DOSE, SINGLE (CUMULATIVE DOSE TO FIRST REACTION: 62.08 MG)
     Route: 065
     Dates: start: 20210308, end: 20210308
  521. EPCORITAMAB [Suspect]
     Active Substance: EPCORITAMAB
     Indication: Follicular lymphoma
     Dosage: 0.8 MILLIGRAM, QD
     Route: 065
  522. EPCORITAMAB [Suspect]
     Active Substance: EPCORITAMAB
     Indication: Follicular lymphoma
     Dosage: 24 MILLIGRAM WEEKLY (CYCLE1-3)
     Route: 065
     Dates: start: 20210322, end: 20210327
  523. EPCORITAMAB [Suspect]
     Active Substance: EPCORITAMAB
     Indication: Follicular lymphoma
     Dosage: 0.16 MILLIGRAM, QD
     Route: 065
     Dates: start: 20210308, end: 20210308
  524. EPCORITAMAB [Suspect]
     Active Substance: EPCORITAMAB
     Indication: Follicular lymphoma
     Dosage: 24 MILLIGRAM, EVERY 1 WEEK, FULL DOSE, CYCLE 1-3
     Route: 065
     Dates: start: 20210322, end: 20210527
  525. EPCORITAMAB [Suspect]
     Active Substance: EPCORITAMAB
     Indication: Follicular lymphoma
     Dosage: 0.16 MILLIGRAM, QD (CUMULATIVE DOSE: 62.08 MG)
     Route: 065
     Dates: start: 20210308, end: 20210308
  526. EPCORITAMAB [Suspect]
     Active Substance: EPCORITAMAB
     Indication: Follicular lymphoma
     Dosage: 0.8 MILLIGRAM, QD (CUMULATIVE DOSE TO FIRST REACTION: 316.0 MG)
     Route: 065
     Dates: start: 20210315
  527. EPCORITAMAB [Suspect]
     Active Substance: EPCORITAMAB
     Indication: Follicular lymphoma
     Dosage: UNK (CUMULATIVE DOSE: 0.96 MG)
     Route: 065
  528. EPCORITAMAB [Suspect]
     Active Substance: EPCORITAMAB
     Indication: Follicular lymphoma
     Dosage: 24 MILLIGRAM, Q2WEEKS, FULL DOSE, CYCLE 4-9
     Route: 065
     Dates: start: 20210607
  529. EPCORITAMAB [Suspect]
     Active Substance: EPCORITAMAB
     Indication: Follicular lymphoma
     Dosage: 24 MILLIGRAM, Q2WEEKS, FULL DOSE, CYCLE 4-9
     Route: 065
     Dates: start: 20210607
  530. EPCORITAMAB [Suspect]
     Active Substance: EPCORITAMAB
     Indication: Follicular lymphoma
     Dosage: 0.16 MILLIGRAM, DAILY, PRIMING DOSE, SINGLE
     Route: 065
     Dates: start: 20210308, end: 20210308
  531. EPCORITAMAB [Suspect]
     Active Substance: EPCORITAMAB
     Indication: Follicular lymphoma
     Dosage: 24 MILLIGRAM
     Route: 065
     Dates: start: 20210322
  532. EPCORITAMAB [Suspect]
     Active Substance: EPCORITAMAB
     Indication: Follicular lymphoma
     Dosage: 24 MILLIGRAM, Q2WK (CUMULATIVE DOSE: 821.0714 MG)
     Route: 065
     Dates: start: 20210607
  533. EPCORITAMAB [Suspect]
     Active Substance: EPCORITAMAB
     Indication: Follicular lymphoma
     Dosage: 24 MILLIGRAM, EVERY 1 WEEK, FULL DOSE, CYCLE 1-3
     Route: 065
     Dates: start: 20210322, end: 20210527
  534. EPCORITAMAB [Suspect]
     Active Substance: EPCORITAMAB
     Indication: Follicular lymphoma
     Dosage: 0.8 MILLIGRAM, QD
     Route: 065
  535. EPCORITAMAB [Suspect]
     Active Substance: EPCORITAMAB
     Indication: Follicular lymphoma
     Dosage: 16 MG, 1/WEEK (CUMULATIVE DOSE: 886.8571 MG)
     Route: 065
     Dates: start: 20210308
  536. EPCORITAMAB [Suspect]
     Active Substance: EPCORITAMAB
     Indication: Follicular lymphoma
     Dosage: 24 MG, 2/WEEK (FULL DOSE, CYCLE1-3)
     Route: 065
     Dates: start: 20210607
  537. EPCORITAMAB [Suspect]
     Active Substance: EPCORITAMAB
     Indication: Follicular lymphoma
     Dosage: 24 MILLIGRAM
     Route: 065
     Dates: start: 20210322
  538. EPCORITAMAB [Suspect]
     Active Substance: EPCORITAMAB
     Indication: Follicular lymphoma
     Dosage: 24 MILLIGRAM, Q2WEEKS, FULL DOSE, CYCLE 4-9
     Route: 065
     Dates: start: 20210607
  539. EPCORITAMAB [Suspect]
     Active Substance: EPCORITAMAB
     Indication: Follicular lymphoma
     Dosage: 0.16 MG, QD (CUMULATIVE DOSE TO FIRST REACTION: 20.153334 MG)
     Route: 065
     Dates: start: 20210308
  540. EPCORITAMAB [Suspect]
     Active Substance: EPCORITAMAB
     Indication: Follicular lymphoma
     Dosage: 24 MILLIGRAM, Q2W(24 MILLIGRAM, Q2WEEKS, FULL DOSE, CYCLE 4-9); 24MG,Q2W(24MG,Q2W, FULL DOSE,CYCLE 4
     Route: 065
     Dates: start: 20210607
  541. EPCORITAMAB [Suspect]
     Active Substance: EPCORITAMAB
     Indication: Follicular lymphoma
     Dosage: 24 MILLIGRAM, QWK, (24 MILLIGRAM, EVERY 1 WEEK, FULL DOSE, CYCLE 1-3)
     Route: 065
     Dates: start: 20210607
  542. EPCORITAMAB [Suspect]
     Active Substance: EPCORITAMAB
     Indication: Follicular lymphoma
     Dosage: 0.8 MILLIGRAM, QD (CUMULATIVE DOSE TO FIRST REACTION: 316.0 MG)
     Route: 065
     Dates: start: 20210315
  543. EPCORITAMAB [Suspect]
     Active Substance: EPCORITAMAB
     Indication: Follicular lymphoma
     Dosage: 0.8 MILLIGRAM, QD; CUMULATIVE DOSE TO FIRST REACTION: 316.0 MG
     Route: 065
     Dates: start: 20210315, end: 20210315
  544. EPCORITAMAB [Suspect]
     Active Substance: EPCORITAMAB
     Indication: Follicular lymphoma
     Dosage: .8 MILLIGRAM DAILY;
     Route: 065
  545. EPCORITAMAB [Suspect]
     Active Substance: EPCORITAMAB
     Indication: Follicular lymphoma
     Dosage: 0.8 MILLIGRAM, QD(0.8 MILLIGRAM, DAILY, INTERMEDIATE DOSE, SINGLE)
     Route: 065
     Dates: start: 20210315, end: 20210315
  546. EPCORITAMAB [Suspect]
     Active Substance: EPCORITAMAB
     Indication: Follicular lymphoma
     Dosage: 24 MILLIGRAM, Q2WEEKS
     Route: 065
     Dates: start: 20210607
  547. EPCORITAMAB [Suspect]
     Active Substance: EPCORITAMAB
     Indication: Follicular lymphoma
     Dosage: 48 MILLIGRAM, QWK,FULL DOSE, CYCLE 4-9
     Route: 065
     Dates: start: 20210607
  548. EPCORITAMAB [Suspect]
     Active Substance: EPCORITAMAB
     Indication: Follicular lymphoma
     Dosage: 24 MILLIGRAM, QWK, (24 MILLIGRAM, EVERY 1 WEEK, FULL DOSE, CYCLE 1-3);CUMULATIVE DOSE TO FIRST REACT
     Route: 065
     Dates: start: 20210607
  549. EPCORITAMAB [Suspect]
     Active Substance: EPCORITAMAB
     Indication: Follicular lymphoma
     Dosage: 24 MILLIGRAM, Q2WEEKS, FULL DOSE, CYCLE 4-9
     Route: 065
     Dates: start: 20210607
  550. EPCORITAMAB [Suspect]
     Active Substance: EPCORITAMAB
     Indication: Follicular lymphoma
     Dosage: 0.8 MILLIGRAM, QD
     Route: 065
  551. EPCORITAMAB [Suspect]
     Active Substance: EPCORITAMAB
     Indication: Follicular lymphoma
     Dosage: 48 MILLIGRAM, QWK
     Route: 065
     Dates: start: 20210607
  552. EPCORITAMAB [Suspect]
     Active Substance: EPCORITAMAB
     Indication: Follicular lymphoma
     Dosage: 16 MILLIGRAM, QWK
     Route: 065
     Dates: start: 20210308
  553. EPCORITAMAB [Suspect]
     Active Substance: EPCORITAMAB
     Indication: Follicular lymphoma
     Dosage: 24 MILLIGRAM,  QW(24 MILLIGRAM, EVERY 1 WEEK, FULL DOSE, CYCLE 1-3); 24 MILLIGRAM, EVERY 1 WEEK, FUL
     Route: 065
     Dates: start: 20210322, end: 20210527
  554. EPCORITAMAB [Suspect]
     Active Substance: EPCORITAMAB
     Indication: Follicular lymphoma
     Dosage: 24 MILLIGRAM, Q2WEEKS, FULL DOSE, CYCLE 4-9
     Route: 065
     Dates: start: 20210607
  555. EPCORITAMAB [Suspect]
     Active Substance: EPCORITAMAB
     Indication: Follicular lymphoma
     Dosage: .8 MILLIGRAM DAILY; (CUMULATIVE DOSE: 0.96 MG)
     Route: 065
  556. EPCORITAMAB [Suspect]
     Active Substance: EPCORITAMAB
     Indication: Follicular lymphoma
     Dosage: 0.16 MILLIGRAM, QD(0.16 MILLIGRAM, DAILY, PRIMING DOSE, SINGLE)
     Route: 065
     Dates: start: 20210308, end: 20210308
  557. EPCORITAMAB [Suspect]
     Active Substance: EPCORITAMAB
     Indication: Follicular lymphoma
     Dosage: 24 MILLIGRAM, QWK, (24 MILLIGRAM, EVERY 1 WEEK, FULL DOSE, CYCLE 1-3); CUMULATIVE DOSE TO FIRST REAC
     Route: 065
     Dates: start: 20210308, end: 20210308
  558. EPCORITAMAB [Suspect]
     Active Substance: EPCORITAMAB
     Indication: Follicular lymphoma
     Dosage: 0.16 MILLIGRAM, QD(0.16 MILLIGRAM, DAILY, PRIMING DOSE, SINGLE)
     Route: 065
     Dates: start: 20210308, end: 20210308
  559. EPCORITAMAB [Suspect]
     Active Substance: EPCORITAMAB
     Indication: Follicular lymphoma
     Dosage: 0.16 MILLIGRAM, QD(0.16 MILLIGRAM, DAILY, PRIMING DOSE, SINGLE)
     Route: 065
     Dates: start: 20210308, end: 20210308
  560. EPCORITAMAB [Suspect]
     Active Substance: EPCORITAMAB
     Indication: Follicular lymphoma
     Dosage: UNK
     Route: 065
  561. EPCORITAMAB [Suspect]
     Active Substance: EPCORITAMAB
     Indication: Follicular lymphoma
     Dosage: 24 MILLIGRAM, QWK (CUMULATIVE DOSE: 1378.2858 MG)
     Route: 065
     Dates: start: 20210322, end: 20210527
  562. EPCORITAMAB [Suspect]
     Active Substance: EPCORITAMAB
     Indication: Follicular lymphoma
     Dosage: 24 MILLIGRAM, BIWEEKLY; TO 24 MILLIGRAM, Q2WEEKS, FULL DOSE, CYCLE 4-9
     Route: 065
     Dates: start: 20210607
  563. EPCORITAMAB [Suspect]
     Active Substance: EPCORITAMAB
     Indication: Follicular lymphoma
     Dosage: 24MG,Q2W(24MG,Q2W, FULL DOSE,CYCLE 4-9) (CUMULATIVE DOSE TO FIRST REACTION: 821.0714 MG)
     Route: 065
     Dates: start: 20210607
  564. EPCORITAMAB [Suspect]
     Active Substance: EPCORITAMAB
     Indication: Follicular lymphoma
     Dosage: 24 MILLIGRAM, QWK
     Route: 065
     Dates: start: 20210322
  565. EPCORITAMAB [Suspect]
     Active Substance: EPCORITAMAB
     Indication: Follicular lymphoma
     Dosage: 24 MILLIGRAM, QWK, (24 MILLIGRAM, EVERY 1 WEEK, FULL DOSE, CYCLE 1-3)
     Route: 065
     Dates: start: 20210308, end: 20210308
  566. EPCORITAMAB [Suspect]
     Active Substance: EPCORITAMAB
     Indication: Follicular lymphoma
     Dosage: 24 MILLIGRAM, BIWEEKLY(CUMULATIVE DOSE TO FIRST REACTION: 60.0 MG)
     Route: 065
     Dates: start: 20210607
  567. PIPERACILLIN AND TAZOBACTAM [Concomitant]
     Active Substance: PIPERACILLIN SODIUM\TAZOBACTAM SODIUM
     Indication: Prophylaxis
     Dosage: UNK
     Dates: start: 20210713, end: 20210714
  568. PIVMECILLINAM HYDROCHLORIDE [Concomitant]
     Active Substance: PIVMECILLINAM HYDROCHLORIDE
     Indication: Product used for unknown indication
     Route: 065
     Dates: start: 20210610, end: 20210614
  569. SOLU-MEDROL [Concomitant]
     Active Substance: METHYLPREDNISOLONE SODIUM SUCCINATE
     Indication: Product used for unknown indication
     Dosage: UNK
     Dates: start: 20210308, end: 20210406
  570. DAPSON SCANPHARM [Concomitant]
     Indication: Product used for unknown indication
     Route: 065
     Dates: start: 20210607
  571. FURIX [Concomitant]
     Indication: Product used for unknown indication
     Dosage: UNK
  572. FURIX [Concomitant]
     Indication: Product used for unknown indication
     Route: 065
     Dates: start: 20210308
  573. FURIX [Concomitant]
     Indication: Product used for unknown indication
     Route: 065
     Dates: start: 20210509
  574. CALCIUM\CHOLECALCIFEROL [Concomitant]
     Active Substance: CALCIUM\CHOLECALCIFEROL
     Indication: Product used for unknown indication
  575. MAGALDRATE [Concomitant]
     Active Substance: MAGALDRATE
     Indication: Product used for unknown indication
     Route: 065
     Dates: start: 20200221
  576. PACLITAXEL [Suspect]
     Active Substance: PACLITAXEL
     Indication: Transitional cell carcinoma
     Dosage: 378 MILLIGRAM
     Route: 065
     Dates: start: 20200427
  577. PACLITAXEL [Suspect]
     Active Substance: PACLITAXEL
     Indication: Transitional cell carcinoma
     Dosage: UNK
     Route: 065
  578. PACLITAXEL [Suspect]
     Active Substance: PACLITAXEL
     Indication: Transitional cell carcinoma
     Route: 065
  579. PACLITAXEL [Suspect]
     Active Substance: PACLITAXEL
     Indication: Transitional cell carcinoma
     Route: 065
  580. PACLITAXEL [Suspect]
     Active Substance: PACLITAXEL
     Indication: Transitional cell carcinoma
     Dosage: 750 MG, Q4W
     Route: 065
  581. PACLITAXEL [Suspect]
     Active Substance: PACLITAXEL
     Indication: Transitional cell carcinoma
     Dosage: 378 MG
     Route: 065
     Dates: start: 20200427
  582. PACLITAXEL [Suspect]
     Active Substance: PACLITAXEL
     Indication: Transitional cell carcinoma
     Dosage: 750 MILLIGRAM, Q4WK
     Route: 065
  583. RITUXIMAB [Suspect]
     Active Substance: RITUXIMAB
     Indication: Follicular lymphoma
     Route: 065
  584. RITUXIMAB [Suspect]
     Active Substance: RITUXIMAB
     Indication: Follicular lymphoma
     Route: 042
     Dates: start: 20210308
  585. RITUXIMAB [Suspect]
     Active Substance: RITUXIMAB
     Indication: Follicular lymphoma
     Route: 042
     Dates: start: 20210308, end: 20210705
  586. RITUXIMAB [Suspect]
     Active Substance: RITUXIMAB
     Indication: Follicular lymphoma
     Route: 042
     Dates: start: 20210308
  587. RITUXIMAB [Suspect]
     Active Substance: RITUXIMAB
     Indication: Follicular lymphoma
     Dosage: DOSEFORM:15,LAST DOSE PRIOR EVENT:9SEP21AND21SEP
     Route: 042
     Dates: start: 20210308
  588. RITUXIMAB [Suspect]
     Active Substance: RITUXIMAB
     Indication: Follicular lymphoma
     Route: 042
     Dates: start: 20210705
  589. RITUXIMAB [Suspect]
     Active Substance: RITUXIMAB
     Indication: Follicular lymphoma
     Route: 042
     Dates: start: 20210705
  590. RITUXIMAB [Suspect]
     Active Substance: RITUXIMAB
     Indication: Follicular lymphoma
     Dosage: 750 MILLIGRAM, 4XW
     Route: 042
     Dates: start: 20210705
  591. RITUXIMAB [Suspect]
     Active Substance: RITUXIMAB
     Indication: Follicular lymphoma
     Route: 042
     Dates: start: 20210705
  592. VENTOLIN [Concomitant]
     Active Substance: ALBUTEROL SULFATE
     Indication: Product used for unknown indication
     Dosage: UNK
     Dates: start: 20210708
  593. ALLOPURINOL [Concomitant]
     Active Substance: ALLOPURINOL
     Indication: Product used for unknown indication
     Dosage: UNK
     Dates: start: 20210308, end: 20210510
  594. BENDAMUSTINE HYDROCHLORIDE [Suspect]
     Active Substance: BENDAMUSTINE HYDROCHLORIDE
     Indication: Follicular lymphoma stage IV
     Dosage: UNK
     Route: 065
  595. BENDAMUSTINE HYDROCHLORIDE [Suspect]
     Active Substance: BENDAMUSTINE HYDROCHLORIDE
     Indication: Follicular lymphoma stage IV
     Dosage: 90 MG/M2, QD (SUBSEQUENT DOSE (90 MG/M2) BENDAMUSTINE ON 06/APR/2021 TO 07/APR/2021, 04/MAY/2021 TO
     Route: 065
     Dates: start: 20210308
  596. BENDAMUSTINE HYDROCHLORIDE [Suspect]
     Active Substance: BENDAMUSTINE HYDROCHLORIDE
     Indication: Follicular lymphoma stage IV
     Dosage: 180 MG, QD (DOSE FORM:15)(CUMULATIVE DOSE TO FIRST REACTION: 69840.0 MG)
     Route: 065
     Dates: start: 20210308
  597. BENDAMUSTINE HYDROCHLORIDE [Suspect]
     Active Substance: BENDAMUSTINE HYDROCHLORIDE
     Indication: Follicular lymphoma stage IV
     Dosage: 180 MG, QD (DOSE FORM:15) (CUMULATIVE DOSE TO FIRST REACTION: 69840.0 MG)
     Route: 065
     Dates: start: 20210308
  598. BENDAMUSTINE HYDROCHLORIDE [Suspect]
     Active Substance: BENDAMUSTINE HYDROCHLORIDE
     Indication: Follicular lymphoma stage IV
     Dosage: 180 MG
     Route: 065
     Dates: start: 20210706
  599. ACYCLOVIR [Concomitant]
     Active Substance: ACYCLOVIR
     Indication: Product used for unknown indication
     Dosage: UNK
  600. ACYCLOVIR [Concomitant]
     Active Substance: ACYCLOVIR
     Indication: Product used for unknown indication
     Dosage: UNK
     Dates: start: 20200402, end: 20200404
  601. ACYCLOVIR [Concomitant]
     Active Substance: ACYCLOVIR
     Indication: Product used for unknown indication
     Dosage: 0.33/DAY
     Dates: start: 20200402, end: 20200404
  602. ACYCLOVIR [Concomitant]
     Active Substance: ACYCLOVIR
     Indication: Product used for unknown indication
     Dosage: 0.33 UNK, QD
  603. ACYCLOVIR [Concomitant]
     Active Substance: ACYCLOVIR
     Indication: Product used for unknown indication
     Dosage: DOSE: 3, 1 DAY; (0.33/DAY)
     Dates: start: 20200402, end: 20200404
  604. ACYCLOVIR [Concomitant]
     Active Substance: ACYCLOVIR
     Indication: Product used for unknown indication
     Dosage: UNK (0.33/DAY)
     Dates: start: 20200402, end: 20200404
  605. ACYCLOVIR [Concomitant]
     Active Substance: ACYCLOVIR
     Indication: Product used for unknown indication
     Dosage: DOSE: 3, 1 DAY; (0.33/DAY)
     Dates: start: 20200402, end: 20200404
  606. ACYCLOVIR [Concomitant]
     Active Substance: ACYCLOVIR
     Indication: Product used for unknown indication
     Dosage: UNK, TID (0.33 DAY)
     Dates: start: 20200402, end: 20200404
  607. CALCIUM\CHOLECALCIFEROL [Concomitant]
     Active Substance: CALCIUM\CHOLECALCIFEROL
     Indication: Product used for unknown indication
     Dosage: UNK
     Dates: start: 20210504
  608. ANTACID [Concomitant]
     Active Substance: ALUMINUM HYDROXIDE\CALCIUM CARBONATE\DIMETHICONE\MAGNESIUM HYDROXIDE
     Indication: Mucosal inflammation
     Dosage: 1 UNK, BID
     Dates: start: 20200221
  609. ANTACID [Concomitant]
     Active Substance: ALUMINUM HYDROXIDE\CALCIUM CARBONATE\DIMETHICONE\MAGNESIUM HYDROXIDE
     Indication: Mucosal inflammation
     Dosage: UNK UNK, BID
     Dates: start: 20200221
  610. MORPHINE SULFATE [Concomitant]
     Active Substance: MORPHINE SULFATE
     Indication: Product used for unknown indication
     Dosage: UNK

REACTIONS (28)
  - Off label use [Unknown]
  - Hydronephrosis [Unknown]
  - Abdominal pain [Recovered/Resolved]
  - Sepsis [Unknown]
  - Blood creatinine increased [Unknown]
  - Constipation [Recovered/Resolved]
  - Cytomegalovirus infection [Recovered/Resolved]
  - Abdominal pain [Recovered/Resolved]
  - Cytomegalovirus test positive [Not Recovered/Not Resolved]
  - Abdominal pain [Recovered/Resolved]
  - Diarrhoea [Recovered/Resolved]
  - Abdominal pain [Recovered/Resolved]
  - Constipation [Unknown]
  - Off label use [Unknown]
  - Constipation [Recovered/Resolved]
  - Abdominal pain [Recovered/Resolved]
  - Abdominal pain [Recovered/Resolved]
  - Abdominal pain [Recovered/Resolved]
  - Constipation [Unknown]
  - Abdominal pain [Not Recovered/Not Resolved]
  - Constipation [Recovered/Resolved]
  - Constipation [Recovered/Resolved]
  - Product use issue [Unknown]
  - Constipation [Unknown]
  - Product use issue [Unknown]
  - Product use in unapproved indication [Unknown]
  - Abdominal pain [Recovered/Resolved]
  - Abdominal pain [Recovered/Resolved]

NARRATIVE: CASE EVENT DATE: 20200212
